FAERS Safety Report 23781841 (Version 6)
Quarter: 2024Q3

REPORT INFORMATION
  Report Type: Spontaneous
  Country: CA (occurrence: CA)
  Receive Date: 20240425
  Receipt Date: 20240807
  Transmission Date: 20241017
  Serious: Yes (Life-Threatening, Hospitalization, Other)
  Sender: BAXTER
  Company Number: CA-BAXTER-2024BAX017161

PATIENT
  Age: 77 Year
  Sex: Female

DRUGS (704)
  1. ACETAMINOPHEN [Suspect]
     Active Substance: ACETAMINOPHEN
     Indication: Fibromyalgia
     Dosage: (DOSAGE FORM: NOT SPECIFIED) 650 MILLIGRAM (MG) AT AN UNSPECIFIED FREQUENCY
     Route: 065
  2. ACETAMINOPHEN [Suspect]
     Active Substance: ACETAMINOPHEN
     Indication: Pain
     Dosage: AT AN UNSPECIFIED DOSE AND FREQUENCY
     Route: 065
  3. ACETAMINOPHEN [Suspect]
     Active Substance: ACETAMINOPHEN
     Indication: Angina pectoris
     Dosage: 600 MILLIGRAM AT AN UNSPECIFIED FREQUENCY
     Route: 065
  4. ACETAMINOPHEN [Suspect]
     Active Substance: ACETAMINOPHEN
     Indication: Radioactive iodine therapy
     Dosage: 650 MILLIGRAM (MG) 1 EVERY 1 DAYS
     Route: 065
  5. ACETAMINOPHEN [Suspect]
     Active Substance: ACETAMINOPHEN
     Dosage: 650 MILLIGRAMS 1 EVERY 6 HOURS
     Route: 065
  6. ACETAMINOPHEN [Suspect]
     Active Substance: ACETAMINOPHEN
     Dosage: 650 MILLIGRAMS 1 EVERY 24 HOURS
     Route: 065
  7. ACETAMINOPHEN [Suspect]
     Active Substance: ACETAMINOPHEN
     Dosage: 600 MILLIGRAMS 1 EVERY 24 HOURS
     Route: 065
  8. ACETAMINOPHEN [Suspect]
     Active Substance: ACETAMINOPHEN
     Dosage: AT AN UNSPECIFIED DOSE AND FREQUENCY (DOSAGE FORM: ELIXIR)
     Route: 065
  9. ACETAMINOPHEN [Suspect]
     Active Substance: ACETAMINOPHEN
     Dosage: 650 MILLIGRAMS 1 EVERY 1 DAY (DOSAGE FORM: ELIXIR)
     Route: 065
  10. ACETAMINOPHEN [Suspect]
     Active Substance: ACETAMINOPHEN
     Dosage: 50 MILLIGRAMS 1 EVERY 1 DAY (DOSAGE FORM: ELIXIR)
     Route: 065
  11. ACETAMINOPHEN [Suspect]
     Active Substance: ACETAMINOPHEN
     Dosage: 650 MILLIGRAMS 4 EVERY 1 DAY (DOSAGE FORM: ELIXIR)
     Route: 065
  12. ACETAMINOPHEN [Suspect]
     Active Substance: ACETAMINOPHEN
     Dosage: 650 MILLIGRAM AT AN UNSPECIFIED FREQUENCY (DOSAGE FORM: ELIXIR)
     Route: 065
  13. FUROSEMIDE [Suspect]
     Active Substance: FUROSEMIDE
     Indication: Oedema
     Dosage: (DOSAGE FORM: NOT SPECIFIED) AT AN UNSPECIFIED FREQUENCY
     Route: 065
  14. FUROSEMIDE [Suspect]
     Active Substance: FUROSEMIDE
     Indication: Coronary artery disease
     Dosage: 40 MILLIGRAM 1 EVERY 1 DAYS
     Route: 065
  15. FUROSEMIDE [Suspect]
     Active Substance: FUROSEMIDE
     Indication: Chest pain
     Dosage: 4.0 MILLIGRAM 1 EVERY 1 DAYS
     Route: 065
  16. FUROSEMIDE [Suspect]
     Active Substance: FUROSEMIDE
     Indication: Angina pectoris
     Dosage: 20 MILLIGRAMS 1 EVERY 1 DAY
     Route: 065
  17. FUROSEMIDE [Suspect]
     Active Substance: FUROSEMIDE
     Dosage: 40 MILLIGRAM 1 EVERY 1 DAYS
     Route: 061
  18. ACEBUTOLOL HYDROCHLORIDE [Suspect]
     Active Substance: ACEBUTOLOL HYDROCHLORIDE
     Indication: Hypertension
     Dosage: 200 MILLIGRAM, 1 EVERY 1 DAYS
     Route: 065
  19. ACEBUTOLOL HYDROCHLORIDE [Suspect]
     Active Substance: ACEBUTOLOL HYDROCHLORIDE
     Indication: Coronary artery disease
     Dosage: 100 MILLIGRAM, 1 EVERY 12 HOURS
     Route: 065
  20. ACEBUTOLOL HYDROCHLORIDE [Suspect]
     Active Substance: ACEBUTOLOL HYDROCHLORIDE
     Indication: Angina pectoris
     Dosage: 50 MILLIGRAM, 1 EVERY 12 HOURS
     Route: 065
  21. ACEBUTOLOL HYDROCHLORIDE [Suspect]
     Active Substance: ACEBUTOLOL HYDROCHLORIDE
     Indication: Constipation
     Dosage: AT AN UNSPECIFIED DOSE AND FREQUENCY
     Route: 065
  22. ACEBUTOLOL HYDROCHLORIDE [Suspect]
     Active Substance: ACEBUTOLOL HYDROCHLORIDE
     Indication: Chest pain
     Dosage: 200 MILLIGRAMS 1 EVERY 24 HOURS (DOSAGE FORM: TABLET)
     Route: 065
  23. ACEBUTOLOL HYDROCHLORIDE [Suspect]
     Active Substance: ACEBUTOLOL HYDROCHLORIDE
     Dosage: 200 MILLIGRAMS, 1 EVERY 12 HOURS
     Route: 065
  24. ACEBUTOLOL HYDROCHLORIDE [Suspect]
     Active Substance: ACEBUTOLOL HYDROCHLORIDE
     Dosage: 200 MILLIGRAMS 1 EVERY 4.8 HOURS
     Route: 065
  25. ACEBUTOLOL HYDROCHLORIDE [Suspect]
     Active Substance: ACEBUTOLOL HYDROCHLORIDE
     Dosage: 100 MILLIGRAM, AT AN UNSPECIFIED FREQUENCY
     Route: 065
  26. ACEBUTOLOL HYDROCHLORIDE [Suspect]
     Active Substance: ACEBUTOLOL HYDROCHLORIDE
     Dosage: 400 MILLIGRAM, 1 EVERY 24 HOURS
     Route: 065
  27. ACEBUTOLOL HYDROCHLORIDE [Suspect]
     Active Substance: ACEBUTOLOL HYDROCHLORIDE
     Dosage: 400 MILLIGRAMS 2 EVERY 1 DAY (DOASGE FOMR: TABLET)
     Route: 065
  28. ACEBUTOLOL HYDROCHLORIDE [Suspect]
     Active Substance: ACEBUTOLOL HYDROCHLORIDE
     Dosage: 200 MILLIGRAMS 2 EVERY 1 DAY (DOSAGE FORM: TABLET)
     Route: 065
  29. ACEBUTOLOL HYDROCHLORIDE [Suspect]
     Active Substance: ACEBUTOLOL HYDROCHLORIDE
     Dosage: 1000.0 MILLIGRAM 1 EVERY 1 WEEKS
     Route: 065
  30. ACEBUTOLOL HYDROCHLORIDE [Suspect]
     Active Substance: ACEBUTOLOL HYDROCHLORIDE
     Dosage: 500.0 MILLIGRAM 1 EVERY 1 DAYS
     Route: 065
  31. ACEBUTOLOL HYDROCHLORIDE [Suspect]
     Active Substance: ACEBUTOLOL HYDROCHLORIDE
     Dosage: 200.0 MILLIGRAM AT AN UNSPECIFIED FREQUENCY
     Route: 065
  32. ACEBUTOLOL HYDROCHLORIDE [Suspect]
     Active Substance: ACEBUTOLOL HYDROCHLORIDE
     Dosage: 50.0 MILLIGRAM 1 EVERY 1 DAYS
     Route: 065
  33. ACEBUTOLOL HYDROCHLORIDE [Suspect]
     Active Substance: ACEBUTOLOL HYDROCHLORIDE
     Dosage: 400.0 MILLIGRAM 1 EVERY 1 WEEKS
     Route: 065
  34. ACEBUTOLOL HYDROCHLORIDE [Suspect]
     Active Substance: ACEBUTOLOL HYDROCHLORIDE
     Dosage: 800.0 MILLIGRAM 1 EVERY 1 DAYS
     Route: 065
  35. ACEBUTOLOL HYDROCHLORIDE [Suspect]
     Active Substance: ACEBUTOLOL HYDROCHLORIDE
     Dosage: 400.0 MILLIGRAM 1 EVERY 1 DAYS
     Route: 065
  36. ACEBUTOLOL HYDROCHLORIDE [Suspect]
     Active Substance: ACEBUTOLOL HYDROCHLORIDE
     Dosage: 100.0 MILLIGRAM 1 EVERY 1 DAYS
     Route: 065
  37. ASPIRIN [Suspect]
     Active Substance: ASPIRIN
     Indication: Cerebrovascular accident
     Dosage: (DOSAGE FORM : NOT SPECIFIED) 1 DOSAGE FORMS 1 EVERY 12 HOURS
     Route: 065
  38. ASPIRIN [Suspect]
     Active Substance: ASPIRIN
     Indication: Hypertension
     Dosage: 2.0 DOSAGE FORMS AT AN UNSPECIFIED FREQUENCY (DOSAGE FORM: PROLONGED RELEASE CAPSULE)
     Route: 065
  39. ASPIRIN [Suspect]
     Active Substance: ASPIRIN
     Indication: Angina pectoris
     Dosage: 2.0 DOSAGE FORMS 1 EVERY 24 HOURS (DOSAGE FORM: PROLONGED RELEASE CAPSULE)
     Route: 065
  40. ASPIRIN [Suspect]
     Active Substance: ASPIRIN
     Indication: Coronary artery disease
     Dosage: 1.0 DOSAGE FORMS AT AN UNSPECIFIED FREQUENCY (DOSAGE FORM: PROLONGED RELEASE CAPSULE)
     Route: 065
  41. ASPIRIN [Suspect]
     Active Substance: ASPIRIN
     Indication: Arthritis
     Dosage: AT AN USNPECIFIED DOSE AND FREQUENCY (DOSAGE FORM: NOT SPECIFIED)
     Route: 065
  42. ASPIRIN [Suspect]
     Active Substance: ASPIRIN
     Dosage: AT AN USNPECIFIED DOSE AND FREQUENCY (DOSAGE FORM: NOT SPECIFIED)
     Route: 048
  43. AMITRIPTYLINE [Suspect]
     Active Substance: AMITRIPTYLINE
     Indication: Insomnia
     Dosage: 50 MILLIGRAM, 1 EVERY 1 DAYS
     Route: 065
  44. AMITRIPTYLINE [Suspect]
     Active Substance: AMITRIPTYLINE
     Indication: Thyroid disorder
     Dosage: 75 MILLIGRAM, 1 EVERY 1 DAYS
     Route: 065
  45. AMITRIPTYLINE [Suspect]
     Active Substance: AMITRIPTYLINE
     Indication: Radioactive iodine therapy
     Dosage: 25 MILLIGRAM, 1 EVERY 1 DAYS
     Route: 065
  46. AMITRIPTYLINE [Suspect]
     Active Substance: AMITRIPTYLINE
     Indication: Prophylaxis
     Dosage: 50 MILLIGRAMS 1 EVERY 24 HOURS
     Route: 065
  47. AMITRIPTYLINE [Suspect]
     Active Substance: AMITRIPTYLINE
     Indication: Pain
     Dosage: 75 MILLIGRAMS 1 EVERY 24 HOURS
     Route: 065
  48. AMITRIPTYLINE [Suspect]
     Active Substance: AMITRIPTYLINE
     Indication: Oedema
     Dosage: 25 MILLIGRAMS 1 EVERY 24 HOURS
     Route: 065
  49. AMITRIPTYLINE [Suspect]
     Active Substance: AMITRIPTYLINE
     Indication: Hypertension
     Dosage: 75 MILLIGRAM, AT AN UNSPECIFIED FREQUENCY
     Route: 065
  50. AMITRIPTYLINE [Suspect]
     Active Substance: AMITRIPTYLINE
     Indication: Fibromyalgia
     Dosage: AT AN UNSPECIFIED DOSE AND FREQUENCY
     Route: 065
  51. AMITRIPTYLINE [Suspect]
     Active Substance: AMITRIPTYLINE
     Indication: Duodenal ulcer
     Dosage: 50 MILLIGRAMS, AT AN UNSPECIFIED FREQUENCY
     Route: 065
  52. AMITRIPTYLINE [Suspect]
     Active Substance: AMITRIPTYLINE
     Indication: Dementia
     Dosage: 200.0 MILLIGRAM AT AN UNSPECIFIED FREQUENCY
     Route: 065
  53. AMITRIPTYLINE [Suspect]
     Active Substance: AMITRIPTYLINE
     Indication: Coronary artery disease
     Dosage: 16.0 MILLIGRAM AT AN UNSPECIFIED FREQUENCY
     Route: 065
  54. AMITRIPTYLINE [Suspect]
     Active Substance: AMITRIPTYLINE
     Indication: Constipation
     Dosage: 0.4 MILLIGRAM AT AN UNSPECIFIED FREQUENCY
     Route: 065
  55. AMITRIPTYLINE [Suspect]
     Active Substance: AMITRIPTYLINE
     Indication: Chest pain
     Dosage: 500.0 MILLIGRAM AT AN UNSPECIFIED FREQUENCY
     Route: 065
  56. AMITRIPTYLINE [Suspect]
     Active Substance: AMITRIPTYLINE
     Indication: Arthritis
     Dosage: 650.0 MILLIGRAM AT AN UNSPECIFIED FREQUENCY
     Route: 065
  57. AMITRIPTYLINE [Suspect]
     Active Substance: AMITRIPTYLINE
     Indication: Angina pectoris
     Dosage: 750.0 MILLIGRAM AT AN UNSPECIFIED FREQUENCY
     Route: 065
  58. AMITRIPTYLINE [Suspect]
     Active Substance: AMITRIPTYLINE
     Dosage: 750.0 MILLIGRAM 1 EVERY 1 DAYS
     Route: 065
  59. AMITRIPTYLINE [Suspect]
     Active Substance: AMITRIPTYLINE
     Dosage: 0.6 MILLIGRAM AT AN UNSPECIFIED FREQUENCY
     Route: 065
  60. AMITRIPTYLINE [Suspect]
     Active Substance: AMITRIPTYLINE
     Dosage: 360.0 MILLIGRAM AT AN UNSPECIFIED FREQUENCY
     Route: 065
  61. AMITRIPTYLINE HYDROCHLORIDE [Suspect]
     Active Substance: AMITRIPTYLINE HYDROCHLORIDE
     Indication: Duodenal ulcer
     Dosage: AT AN UNSPECIFIED DOSE AND FREQUENCY
     Route: 065
  62. AMITRIPTYLINE HYDROCHLORIDE [Suspect]
     Active Substance: AMITRIPTYLINE HYDROCHLORIDE
     Indication: Insomnia
     Dosage: 50 MILLIGRAM, AT AN UNSPECIFIED FREQUENCY
     Route: 065
  63. AMITRIPTYLINE HYDROCHLORIDE [Suspect]
     Active Substance: AMITRIPTYLINE HYDROCHLORIDE
     Indication: Thyroid disorder
     Dosage: 50.0 MILLIGRAM, 1 EVERY 1 DAYS
     Route: 065
  64. AMITRIPTYLINE HYDROCHLORIDE [Suspect]
     Active Substance: AMITRIPTYLINE HYDROCHLORIDE
     Indication: Radioactive iodine therapy
     Dosage: AT AN UNSPECIFIED DOSE AND FREQUENCY
     Route: 048
  65. AMITRIPTYLINE HYDROCHLORIDE [Suspect]
     Active Substance: AMITRIPTYLINE HYDROCHLORIDE
     Indication: Prophylaxis
     Dosage: 75 MILLIGRAM 1 EVERY 1 DAYS
     Route: 065
  66. AMITRIPTYLINE HYDROCHLORIDE [Suspect]
     Active Substance: AMITRIPTYLINE HYDROCHLORIDE
     Indication: Oedema
     Dosage: 75 MILLIGRAM, AT AN UNSPECIFIED FREQUENCY
     Route: 065
  67. AMITRIPTYLINE HYDROCHLORIDE [Suspect]
     Active Substance: AMITRIPTYLINE HYDROCHLORIDE
     Indication: Hypertension
     Dosage: AT AN UNSPECIFIED DOSE AND FREQUENCY (DOSAGE FORM: TABLET)
     Route: 065
  68. AMITRIPTYLINE HYDROCHLORIDE [Suspect]
     Active Substance: AMITRIPTYLINE HYDROCHLORIDE
     Indication: Fibromyalgia
     Dosage: 25 MILLIGRAM 1 EVERY 1 DAYS
     Route: 065
  69. AMITRIPTYLINE HYDROCHLORIDE [Suspect]
     Active Substance: AMITRIPTYLINE HYDROCHLORIDE
     Indication: Dementia
     Dosage: 5 MILLIGRAMS 1 EVERY 1 DAY (DOSAGE FORM: TABLET)
     Route: 065
  70. AMITRIPTYLINE HYDROCHLORIDE [Suspect]
     Active Substance: AMITRIPTYLINE HYDROCHLORIDE
     Indication: Coronary artery disease
     Dosage: 75 MILLIGRAM, AT AN UNSPECIFIED FREQUENCY (DOSAGE FORM: TABLET)
     Route: 065
  71. AMITRIPTYLINE HYDROCHLORIDE [Suspect]
     Active Substance: AMITRIPTYLINE HYDROCHLORIDE
     Indication: Constipation
     Dosage: 50 MILLIGRAM, AT AN UNSPECIFIED FREQUENCY (DOSAGE FORM: TABLET)
     Route: 048
  72. AMITRIPTYLINE HYDROCHLORIDE [Suspect]
     Active Substance: AMITRIPTYLINE HYDROCHLORIDE
     Indication: Chest pain
     Dosage: 75 MILLIGRAMS 1 EVERY 1 DAY (DOSAGE FORM: TABLET)
     Route: 048
  73. AMITRIPTYLINE HYDROCHLORIDE [Suspect]
     Active Substance: AMITRIPTYLINE HYDROCHLORIDE
     Indication: Arthritis
     Dosage: 50 MILLIGRAMS 1 EVERY 1 DAY (DOSAGE FORM: TABLET)
     Route: 048
  74. AMITRIPTYLINE HYDROCHLORIDE [Suspect]
     Active Substance: AMITRIPTYLINE HYDROCHLORIDE
     Indication: Angina pectoris
  75. AMLODIPINE BESYLATE [Suspect]
     Active Substance: AMLODIPINE BESYLATE
     Indication: Hypertension
     Dosage: 5 MILLIGRAM 1 EVERY 1 DAYS
     Route: 065
  76. AMLODIPINE BESYLATE [Suspect]
     Active Substance: AMLODIPINE BESYLATE
     Indication: Coronary artery disease
     Dosage: 50 MILLIGRAM 1 EVERY 1 DAYS
     Route: 065
  77. AMLODIPINE BESYLATE [Suspect]
     Active Substance: AMLODIPINE BESYLATE
     Indication: Constipation
     Dosage: 5 MILLIGRAM, AT AN UNSPECIFIED FREQUENCY
     Route: 065
  78. AMLODIPINE BESYLATE [Suspect]
     Active Substance: AMLODIPINE BESYLATE
     Indication: Chest pain
     Dosage: AT AN UNSPECIFIED DOSE AND FREQUENCY
     Route: 065
  79. AMLODIPINE BESYLATE [Suspect]
     Active Substance: AMLODIPINE BESYLATE
     Indication: Angina pectoris
  80. BISACODYL [Suspect]
     Active Substance: BISACODYL
     Indication: Constipation
     Dosage: (DOSAGE FORM: NOT SPECIFIED) 2 DOSAGE FORMS 1 EVERY 12 HOURS
     Route: 065
  81. BISACODYL [Suspect]
     Active Substance: BISACODYL
     Indication: Chronic obstructive pulmonary disease
     Dosage: 1.0 DOSAGE FORMS, 1 EVERY 1 DAYS
     Route: 065
  82. BISACODYL [Suspect]
     Active Substance: BISACODYL
     Indication: Angina pectoris
     Dosage: 2.0 DOSAGE FORMS 1 EVERY 1 DAYS
     Route: 065
  83. BISACODYL [Suspect]
     Active Substance: BISACODYL
     Dosage: 1.0 DOSAGE FORMS, 1 EVERY 24 HOURS
     Route: 065
  84. BISACODYL [Suspect]
     Active Substance: BISACODYL
     Dosage: AT AN UNSPECIFIED DOSE 1 EVERY 1 DAY
     Route: 065
  85. BISACODYL [Suspect]
     Active Substance: BISACODYL
     Dosage: 1.0 DOSAGE FORM AT NA UNSPECIFIED DOSE NAD FREQUENCY
     Route: 065
  86. BISACODYL [Suspect]
     Active Substance: BISACODYL
     Dosage: 2.0 DOSAGE FORMS AT AN UNSPECIFIED FREQUENCY
     Route: 048
  87. CARBAMAZEPINE [Suspect]
     Active Substance: CARBAMAZEPINE
     Indication: Seizure prophylaxis
     Dosage: (DOSAGE FORM: NOT SPECIFIED) 100 MILLIGRAM (MG) 1 EVERY 12 HOURS
     Route: 065
  88. CARBAMAZEPINE [Suspect]
     Active Substance: CARBAMAZEPINE
     Indication: Pain
     Dosage: (DOSAGE FORM: NOT SPECIFIED) 200 MILLIGRAM (MG) 1 EVERY 12 HOURS
     Route: 065
  89. CARBAMAZEPINE [Suspect]
     Active Substance: CARBAMAZEPINE
     Indication: Fibromyalgia
     Dosage: 200 MILLIGRAM, AT UNSPECIFIED FREQUENCY
     Route: 065
  90. CARBAMAZEPINE [Suspect]
     Active Substance: CARBAMAZEPINE
     Indication: Seizure
     Dosage: 200 MILLIGRAM 2 EVERY 1 DAYS
     Route: 065
  91. CARBAMAZEPINE [Suspect]
     Active Substance: CARBAMAZEPINE
     Indication: Bladder disorder
     Dosage: 2 DOSAGE FORMS 1 EVERY 1 DAYS
     Route: 065
  92. CARBAMAZEPINE [Suspect]
     Active Substance: CARBAMAZEPINE
     Dosage: 100 MILLIGRAM, AT UNSPECIFIED FREQUENCY
     Route: 065
  93. CARBAMAZEPINE [Suspect]
     Active Substance: CARBAMAZEPINE
     Dosage: 1 DOSAGE FORMS 1 EVERY 1 DAYS
     Route: 065
  94. CARBAMAZEPINE [Suspect]
     Active Substance: CARBAMAZEPINE
     Dosage: 400 MILLIGRAM, AT UNSPECIFIED FREQUENCY
     Route: 065
  95. CARBAMAZEPINE [Suspect]
     Active Substance: CARBAMAZEPINE
     Dosage: 400 MILLIGRAM, 1 EVERY 12 HOURS
     Route: 065
  96. CARBAMAZEPINE [Suspect]
     Active Substance: CARBAMAZEPINE
     Dosage: 2 DOSAGE FORMS 1 EVERY 12 HOURS
     Route: 065
  97. CARBAMAZEPINE [Suspect]
     Active Substance: CARBAMAZEPINE
     Dosage: 400 MILLIGRAM, 2 EVERY 1 DAYS
     Route: 065
  98. CARBAMAZEPINE [Suspect]
     Active Substance: CARBAMAZEPINE
     Dosage: 1.0 DOSAGE FORMS, 1 EVERY 12 DAYS
     Route: 065
  99. CARBAMAZEPINE [Suspect]
     Active Substance: CARBAMAZEPINE
     Dosage: AT AN UNSPECIFIED DOSE AND FREQUENCY
     Route: 065
  100. CARBAMAZEPINE [Suspect]
     Active Substance: CARBAMAZEPINE
     Dosage: 10 MILLIGRAMS 1 EVERY 1 DAY
     Route: 065
  101. CARBAMAZEPINE [Suspect]
     Active Substance: CARBAMAZEPINE
     Dosage: 200 MILLIGRAM 1 EVERY 24 HOURS
     Route: 065
  102. CARBAMAZEPINE [Suspect]
     Active Substance: CARBAMAZEPINE
     Dosage: 500 MILLIGRAMS 1 EVERY 24 HOURS
     Route: 065
  103. CARBAMAZEPINE [Suspect]
     Active Substance: CARBAMAZEPINE
     Dosage: 100 MILLIGRAMS AT AN UNSPECIFIED FREQUENCY (DOSAGE FORM: PROLONGED-RELEASE TABLET)
     Route: 065
  104. CARBAMAZEPINE [Suspect]
     Active Substance: CARBAMAZEPINE
     Dosage: 200 MILLIGRAMS AT AN UNSPECIFIED FREQUENCY (DOSAGE FORM: PROLONGED-RELEASE TABLET)
     Route: 065
  105. CARBAMAZEPINE [Suspect]
     Active Substance: CARBAMAZEPINE
     Dosage: 1.0 DOSAGE FORMS 2 EVERY 1 DAY (DOSAGE FORM: PROLONGED RELEASE TABLETS)
     Route: 065
  106. CARBAMAZEPINE [Suspect]
     Active Substance: CARBAMAZEPINE
     Dosage: 2.0 DOSAGE FORMS 1 EVERY 1 DAY (DOSAGE FORM: PROLONGED RELEASE TABLETS)
     Route: 065
  107. CARBAMAZEPINE [Suspect]
     Active Substance: CARBAMAZEPINE
     Dosage: 1.0 DOSAGE FORMS 1 EVERY 1 DAY (DOSAGE FORM: PROLONGED RELEASE TABLETS)
     Route: 065
  108. CARBAMAZEPINE [Suspect]
     Active Substance: CARBAMAZEPINE
     Dosage: 1000 MILLIGRAMS AT AN UNSPECIFIED FREQUENCY (DOSAGE FORM: PROLONGED RELEASE TABLET)
     Route: 065
  109. CARBAMAZEPINE [Suspect]
     Active Substance: CARBAMAZEPINE
     Dosage: 800 MILLIGRAMS 2 EVERY 1 DAY (DOSAGE FORM: PROLONGED RELEASE TABLET)
     Route: 065
  110. CARBAMAZEPINE [Suspect]
     Active Substance: CARBAMAZEPINE
     Dosage: 200 MILLIGRAMS 2 EVERY 1 DAY (DOSAGE FORM: PROLONGED RELEASE TABLET)
     Route: 065
  111. CARBAMAZEPINE [Suspect]
     Active Substance: CARBAMAZEPINE
     Dosage: 400 MILLIGRAMS 2 EVERY 1 DAY (PROLONGED RELEASE TABLET)
     Route: 065
  112. CARBAMAZEPINE [Suspect]
     Active Substance: CARBAMAZEPINE
     Dosage: 10 MILLIGRAMS AT AN UNSPECIFIED FREQUENCY (DOSAGE FORM: PROLONGED RELEASE TABLET)
     Route: 065
  113. CARBAMAZEPINE [Suspect]
     Active Substance: CARBAMAZEPINE
     Dosage: 2000 MILLIGRAMS AT AN UNSPECIFIED FREQUENCY (DOSAGE FORM: PROLONGED RELEASE TABLET)
     Route: 065
  114. CYCLOBENZAPRINE [Suspect]
     Active Substance: CYCLOBENZAPRINE
     Indication: Fibromyalgia
     Dosage: 5 MILLIGRAM (MG) 1 EVERY 12 HOURS
     Route: 065
  115. CYCLOBENZAPRINE [Suspect]
     Active Substance: CYCLOBENZAPRINE
     Indication: Pain
     Dosage: 5 MILLIGRAM (MG) 1 EVERY 8 HOURS
     Route: 065
  116. CYCLOBENZAPRINE [Suspect]
     Active Substance: CYCLOBENZAPRINE
     Indication: Seizure prophylaxis
     Dosage: 5 MILLIGRAM 2 EVERY 1 DAYS
     Route: 065
  117. CYCLOBENZAPRINE [Suspect]
     Active Substance: CYCLOBENZAPRINE
     Indication: Seizure
     Dosage: 45 MILLIGRAM 1 EVERY 1 DAYS
     Route: 065
  118. CYCLOBENZAPRINE [Suspect]
     Active Substance: CYCLOBENZAPRINE
     Dosage: 0.63 MILLIGRAM AT UNSPECIFIED FREQUENCY
     Route: 065
  119. CYCLOBENZAPRINE [Suspect]
     Active Substance: CYCLOBENZAPRINE
     Dosage: 0.5 MILLIGRAM 1 EVERY 1 DAYS
     Route: 065
  120. CYCLOBENZAPRINE [Suspect]
     Active Substance: CYCLOBENZAPRINE
     Dosage: 0.25 MILLIGRAM 1 EVERY 1 DAYS
     Route: 065
  121. CYCLOBENZAPRINE [Suspect]
     Active Substance: CYCLOBENZAPRINE
     Dosage: 0.33 MILLIGRAM 1 EVERY 1 DAYS
     Route: 065
  122. CYCLOBENZAPRINE [Suspect]
     Active Substance: CYCLOBENZAPRINE
     Dosage: 15 MILLIGRAMS 1 EVERY 12 HOURS (DOSAGE FOR: TABLET)
     Route: 065
  123. DILTIAZEM [Suspect]
     Active Substance: DILTIAZEM
     Indication: Hypertension
     Dosage: AT AN UNSPECIFIED DOSE AND FREQUENCY (DOSAGE FORM: NOT SPECIFIED)
     Route: 065
  124. DILTIAZEM [Suspect]
     Active Substance: DILTIAZEM
     Indication: Coronary artery disease
     Dosage: 300 MILLIGRAMS AT AN UNSPECIFIED FREQUENCY
     Route: 065
  125. DILTIAZEM [Suspect]
     Active Substance: DILTIAZEM
     Indication: Angina pectoris
     Dosage: 360 MILLIGRAMS AT AN UNSPECIFIED FREQUENCY
     Route: 065
  126. DILTIAZEM [Suspect]
     Active Substance: DILTIAZEM
     Indication: Angina unstable
     Dosage: 360 MILLIGRAMS 1 EVERY 24 HOURS
     Route: 065
  127. DILTIAZEM [Suspect]
     Active Substance: DILTIAZEM
     Indication: Chest pain
     Dosage: 360 MILLIGRAMS 1 EVERY 1 DAY
     Route: 065
  128. DIPYRIDAMOLE [Suspect]
     Active Substance: DIPYRIDAMOLE
     Indication: Cerebrovascular accident
     Dosage: (DOSAGE FORM: NOT SPECIFIED) 1 DOSAGE FORMS 1 EVERY 12 HOURS
     Route: 065
  129. DIPYRIDAMOLE [Suspect]
     Active Substance: DIPYRIDAMOLE
     Dosage: 2.0 DOSAGE FORMS 1 EVERY 1 DAYS
     Route: 065
  130. DIPYRIDAMOLE [Suspect]
     Active Substance: DIPYRIDAMOLE
     Dosage: AT AN UNSPECIFIED DOSE AND FREQUENCY
     Route: 065
  131. DIPYRIDAMOLE [Suspect]
     Active Substance: DIPYRIDAMOLE
     Dosage: AT AN UNSPECIFIED DOSE AND FREQUENCY (DOSAGE FORM: NOT SPECIFIED)
     Route: 065
  132. DIPYRIDAMOLE [Suspect]
     Active Substance: DIPYRIDAMOLE
     Dosage: AT AN UNSPECIFIED DOSE AND FREQUENCY (DOSAGE FORM: NOT SPECIFIED)
     Route: 048
  133. DIPYRIDAMOLE [Suspect]
     Active Substance: DIPYRIDAMOLE
     Dosage: 1 DOSAGE FORMS 1 EVERY 12 HOURS
     Route: 065
  134. DIPYRIDAMOLE [Suspect]
     Active Substance: DIPYRIDAMOLE
     Dosage: 1 DOSAGE FORMS 1 EVERY 24 HOURS
     Route: 065
  135. DIPYRIDAMOLE [Suspect]
     Active Substance: DIPYRIDAMOLE
     Dosage: 2 DOSAGE FORMS 1 EVERY 12 HOURS
     Route: 065
  136. DIPYRIDAMOLE [Suspect]
     Active Substance: DIPYRIDAMOLE
     Dosage: 2 DOSAGE FORMS 1 EVERY 24 HOURS
     Route: 065
  137. DIPYRIDAMOLE [Suspect]
     Active Substance: DIPYRIDAMOLE
     Dosage: AT AN UNSPECIFIED DOSE 1 EVERY 24 HOURS
     Route: 065
  138. DIPYRIDAMOLE [Suspect]
     Active Substance: DIPYRIDAMOLE
     Dosage: 5.0 DOSAGE FORM AT NA UNSPECIFIED FREQUENCY
     Route: 065
  139. DIPYRIDAMOLE [Suspect]
     Active Substance: DIPYRIDAMOLE
     Dosage: AT AN UNSPECIFIED DOSE 1 EVERY 12 HOURS
     Route: 065
  140. DIPYRIDAMOLE [Suspect]
     Active Substance: DIPYRIDAMOLE
     Dosage: 200 MILLIGRAMS 1 EVERY 12 HOURS
     Route: 065
  141. DIPYRIDAMOLE [Suspect]
     Active Substance: DIPYRIDAMOLE
     Dosage: 1 DOSAGE FORM AT AN UNSPECIFIED FREQUENCY
     Route: 065
  142. DIPYRIDAMOLE [Suspect]
     Active Substance: DIPYRIDAMOLE
     Dosage: 2 DOSAGE FORMS AT AN UNSPECIFIED FREQUENCY
     Route: 065
  143. DIPYRIDAMOLE [Suspect]
     Active Substance: DIPYRIDAMOLE
     Dosage: 400.0 MILLIGRAM, 1 EVERY 1 DAYS
     Route: 065
  144. DIPYRIDAMOLE [Suspect]
     Active Substance: DIPYRIDAMOLE
     Dosage: 0.5 MILLIGRAM
     Route: 065
  145. DIPYRIDAMOLE [Suspect]
     Active Substance: DIPYRIDAMOLE
     Dosage: 360.0 MILLIGRAM, 1 EVERY 1 DAYS
     Route: 065
  146. DIPYRIDAMOLE [Suspect]
     Active Substance: DIPYRIDAMOLE
     Dosage: 25.0 MILLIGRAM
     Route: 065
  147. GALANTAMINE HYDROBROMIDE [Suspect]
     Active Substance: GALANTAMINE HYDROBROMIDE
     Indication: Dementia
     Dosage: 16 MILLIGRAM 1 EVERY 1 DAYS
     Route: 065
  148. GALANTAMINE HYDROBROMIDE [Suspect]
     Active Substance: GALANTAMINE HYDROBROMIDE
     Dosage: 16 MILLIGRAMS AT AN UNSPECIFIED DOSE AND FREQUENCY
     Route: 065
  149. GALANTAMINE HYDROBROMIDE [Suspect]
     Active Substance: GALANTAMINE HYDROBROMIDE
     Dosage: 18.0 MILLIGRAM, 1 EVERY 1 DAYS
     Route: 065
  150. GLUCOSAMINE [Suspect]
     Active Substance: GLUCOSAMINE
     Indication: Arthritis
     Dosage: (DOSAGE FORM: NOT SPECIFIED) 500 MILLIGRAM (MG) 1 EVERY 12 HOURS
     Route: 065
  151. GLUCOSAMINE [Suspect]
     Active Substance: GLUCOSAMINE
     Indication: Pain
     Dosage: 2500 MILLIGRAMS 1 EVERY 24 HOURS
     Route: 065
  152. GLUCOSAMINE [Suspect]
     Active Substance: GLUCOSAMINE
     Dosage: 1000 MILLIGRAMS 1 EVERY 12 HOURS
     Route: 065
  153. GLUCOSAMINE [Suspect]
     Active Substance: GLUCOSAMINE
     Dosage: 500 MILLIGRAMS 1 EVERY 24 HOURS (DOSAGE FORM: NOT SPECIFIED)
     Route: 065
  154. GLUCOSAMINE [Suspect]
     Active Substance: GLUCOSAMINE
     Dosage: 250 MILLIGRAMS 1 EVERY 12 HOURS
     Route: 065
  155. GLUCOSAMINE [Suspect]
     Active Substance: GLUCOSAMINE
     Dosage: 500 MILLIGRAMS AT AN UNSPECIFIED DOSE AND FREQUENCY
     Route: 065
  156. GLUCOSAMINE [Suspect]
     Active Substance: GLUCOSAMINE
     Dosage: 1000 MILLIGRAMS 1 EVERY 24 HOURS
     Route: 065
  157. GLUCOSAMINE [Suspect]
     Active Substance: GLUCOSAMINE
     Dosage: 500 MILLIGRAMS 2 EVERY 1 DAY (DOSAGE FORM: TABLET)
     Route: 065
  158. GLUCOSAMINE [Suspect]
     Active Substance: GLUCOSAMINE
     Dosage: 1000 MILLIGRAMS 1 EVERY 1 DAY (DOSAGE FORM: TABLET)
     Route: 065
  159. GLUCOSAMINE [Suspect]
     Active Substance: GLUCOSAMINE
     Dosage: 250 MILLIGRAMS 1 EVERY 1 DAY (DOSAGE FORM: TABLET)
     Route: 065
  160. GLUCOSAMINE [Suspect]
     Active Substance: GLUCOSAMINE
     Dosage: 2500 MILLIGRAMS 1 EVERY 1 DAY (DOSAGE FORM: TABLET)
     Route: 065
  161. GLUCOSAMINE [Suspect]
     Active Substance: GLUCOSAMINE
     Dosage: 2500 MILLIGRAMS AT AN UNSPECIFIED FREQUENCY (DOASGE FORM: TABLET)
     Route: 065
  162. LACTULOSE [Suspect]
     Active Substance: LACTULOSE
     Indication: Constipation
     Dosage: 15 ML 1 EVERY 1 DAYS (DOSAGE FORMS: ORAL SOLUTION)
     Route: 048
  163. LACTULOSE [Suspect]
     Active Substance: LACTULOSE
     Indication: Thyroid disorder
     Dosage: (DOSAGE FORMS : LIQUID ORAL) 15 MILLILITER (ML) AT AN UNSPECIFIED FREQUENCY
     Route: 048
  164. LACTULOSE [Suspect]
     Active Substance: LACTULOSE
     Indication: Radioactive iodine therapy
     Dosage: AT AN UNSPECIFIED DOSE AND FREQUENCY
     Route: 048
  165. LACTULOSE [Suspect]
     Active Substance: LACTULOSE
     Dosage: AT AN UNSPECIFIED DOSE AND FREQUENCY (DOSAGE FORM: SYRUP)
     Route: 048
  166. LACTULOSE [Suspect]
     Active Substance: LACTULOSE
     Dosage: 15 MILLIGRAMS AT AN UNSPECIFIED FREQUENCY (DOSAGE FOR: LIQUID)
     Route: 065
  167. LACTULOSE [Suspect]
     Active Substance: LACTULOSE
     Dosage: (DOSAGE FORM: SYRUP), AT AN UNSPECIFIED DOSE, 1 EVERY 24 HOURS
     Route: 048
  168. LACTULOSE [Suspect]
     Active Substance: LACTULOSE
     Dosage: 2.0 DOSAGE FORMS 1 EVERY 1 DAY (DOSAGE FORM: LIQUID)
     Route: 065
  169. LEVOFLOXACIN [Suspect]
     Active Substance: LEVOFLOXACIN
     Indication: Urinary tract infection
     Dosage: (DOSAGE FORM: NOT SPECIFIED) AT AN UNSPECIFIED DOSE AND FREQUENCY
     Route: 065
  170. LEVOFLOXACIN [Suspect]
     Active Substance: LEVOFLOXACIN
     Indication: Thyroid disorder
     Dosage: 250 MILLIGRAM 1 EVERY 1 DAYS
     Route: 065
  171. LEVOFLOXACIN [Suspect]
     Active Substance: LEVOFLOXACIN
     Indication: Radioactive iodine therapy
     Dosage: 250 MILLIGRAM 1 EVERY 1 DAYS (DOSAGE FORM: NOT SPECIFIED)
     Route: 065
  172. LEVOFLOXACIN [Suspect]
     Active Substance: LEVOFLOXACIN
     Dosage: 250 MILLIGRAMS 1 EVERY 24 HOURS
     Route: 065
  173. LEVOFLOXACIN [Suspect]
     Active Substance: LEVOFLOXACIN
     Dosage: 200 MILLIGRAMS 1 EVERY 24 HOURS
     Route: 065
  174. LEVOFLOXACIN [Suspect]
     Active Substance: LEVOFLOXACIN
     Dosage: 15 MILLIGRAMS AT AN UNSPECIFIED DOSE AND FREQUENCY
     Route: 065
  175. LEVOFLOXACIN [Suspect]
     Active Substance: LEVOFLOXACIN
     Dosage: 200 MILLIGRAMS 1 EVERY 1 DAY
     Route: 065
  176. LEVOTHYROXINE SODIUM [Suspect]
     Active Substance: LEVOTHYROXINE SODIUM
     Indication: Thyroid disorder
     Dosage: (DOSAGE FORM: NOT SPECIFIED) AT AN UNSPECIFIED DOSE AND FREQUENCY
     Route: 065
  177. LEVOTHYROXINE SODIUM [Suspect]
     Active Substance: LEVOTHYROXINE SODIUM
     Indication: Radioactive iodine therapy
     Dosage: 0.088 MILLIGRAM 1 EVERY 1 DAYS (DOSAGE FROMS: NOT SPECIFIED)
     Route: 065
  178. LEVOTHYROXINE SODIUM [Suspect]
     Active Substance: LEVOTHYROXINE SODIUM
     Indication: Urinary tract infection
     Dosage: 0.89 MILLIGRAM AT UNSPECIFIED FREQUENCY
     Route: 048
  179. LEVOTHYROXINE SODIUM [Suspect]
     Active Substance: LEVOTHYROXINE SODIUM
     Indication: Constipation
     Dosage: 0.09 MILLIGRAM 1 EVERY 1 DAYS
     Route: 048
  180. LEVOTHYROXINE SODIUM [Suspect]
     Active Substance: LEVOTHYROXINE SODIUM
     Dosage: 1244 MILLIGRAM 1 EVERY 1 DAYS
     Route: 065
  181. LEVOTHYROXINE SODIUM [Suspect]
     Active Substance: LEVOTHYROXINE SODIUM
     Dosage: 88 MILLIGRAM 1 EVERY 1 DAYS
     Route: 065
  182. LEVOTHYROXINE SODIUM [Suspect]
     Active Substance: LEVOTHYROXINE SODIUM
     Dosage: 88 MILLIGRAM 1 EVERY 24 HOURS
     Route: 065
  183. LEVOTHYROXINE SODIUM [Suspect]
     Active Substance: LEVOTHYROXINE SODIUM
     Dosage: 0.9 MILLIGRAM 1 EVERY 24 HOURS
     Route: 065
  184. LEVOTHYROXINE SODIUM [Suspect]
     Active Substance: LEVOTHYROXINE SODIUM
     Dosage: 88 MILLIGRAM 1 EVERY 24 HOURS
     Route: 065
  185. LEVOTHYROXINE SODIUM [Suspect]
     Active Substance: LEVOTHYROXINE SODIUM
     Dosage: 0.088 MILLIGRAM 1 EVERY 24 HOURS
     Route: 065
  186. LEVOTHYROXINE SODIUM [Suspect]
     Active Substance: LEVOTHYROXINE SODIUM
     Dosage: 0.88 MILLIGRAM 1 EVERY 24 HOURS
     Route: 065
  187. LEVOTHYROXINE SODIUM [Suspect]
     Active Substance: LEVOTHYROXINE SODIUM
     Dosage: 0.8 MILLIGRAM 1 EVERY 24 HOURS
     Route: 065
  188. LEVOTHYROXINE SODIUM [Suspect]
     Active Substance: LEVOTHYROXINE SODIUM
     Dosage: 250 MILLIGRAM 1 EVERY 24 HOURS
     Route: 065
  189. LEVOTHYROXINE SODIUM [Suspect]
     Active Substance: LEVOTHYROXINE SODIUM
     Dosage: 622 MILLIGRAM 1 EVERY 12 HOURS
     Route: 065
  190. LEVOTHYROXINE SODIUM [Suspect]
     Active Substance: LEVOTHYROXINE SODIUM
     Dosage: 1.0 DOSAGE FORMS 1 EVERY 1 DAYS
     Route: 065
  191. MAGNESIUM HYDROXIDE [Suspect]
     Active Substance: MAGNESIUM HYDROXIDE
     Indication: Constipation
     Dosage: AT AN UNSPECIFIED DOSE AND FREQUENCY
     Route: 065
  192. MAGNESIUM HYDROXIDE [Suspect]
     Active Substance: MAGNESIUM HYDROXIDE
     Dosage: (DOSAGE FORM: NOT SPECIFIED) 1 DOSAGE FORMS 1 EVERY 12 HOURS
     Route: 065
  193. MAGNESIUM HYDROXIDE [Suspect]
     Active Substance: MAGNESIUM HYDROXIDE
     Dosage: (DOSAGE FORM: NOT SPECIFIED) 622 MILLIGRAM (MG) 1 EVERY 1 DAYS
     Route: 065
  194. MAGNESIUM HYDROXIDE [Suspect]
     Active Substance: MAGNESIUM HYDROXIDE
     Dosage: (DOSAGE FORM: NOT SPECIFIED) 2 DOSAGE FORMS 1 EVERY 1 DAYS
     Route: 065
  195. MAGNESIUM HYDROXIDE [Suspect]
     Active Substance: MAGNESIUM HYDROXIDE
     Dosage: AT AN UNSPECIFIED DOSE 1 EVERY 24 HOURS (DOSAGE FORM: TABLET)
     Route: 065
  196. MAGNESIUM HYDROXIDE [Suspect]
     Active Substance: MAGNESIUM HYDROXIDE
     Dosage: 2.0 DOSAGE FORMS 1 EVERY 24 HOURS
     Route: 065
  197. MAGNESIUM HYDROXIDE [Suspect]
     Active Substance: MAGNESIUM HYDROXIDE
     Dosage: 622 MILLIGRAMS 1 EVERY 24 HOURS
     Route: 065
  198. MAGNESIUM HYDROXIDE [Suspect]
     Active Substance: MAGNESIUM HYDROXIDE
     Dosage: 1.0 DOSAGE FORMS 1 EVERY 24 HOURS
     Route: 065
  199. MAGNESIUM HYDROXIDE [Suspect]
     Active Substance: MAGNESIUM HYDROXIDE
     Dosage: 1240 MILLIGRAMS 1 EVERY 24 HOURS
     Route: 065
  200. MAGNESIUM HYDROXIDE [Suspect]
     Active Substance: MAGNESIUM HYDROXIDE
     Dosage: AT AN UNSPECIFIED DOSE 1 EVERY 2 DAYS
     Route: 065
  201. MAGNESIUM HYDROXIDE [Suspect]
     Active Substance: MAGNESIUM HYDROXIDE
     Dosage: 2.0 DOSAGE FORMS 2 EVERY 1 DAYS
     Route: 065
  202. MAGNESIUM HYDROXIDE [Suspect]
     Active Substance: MAGNESIUM HYDROXIDE
     Dosage: 620 MILLIGRAMS AT AN UNSPECIFIED DOSE AND FREQUENCY
     Route: 065
  203. MAGNESIUM HYDROXIDE [Suspect]
     Active Substance: MAGNESIUM HYDROXIDE
     Dosage: 40 DOSAGE FORMS 1 EVERY 1 DAY
     Route: 065
  204. MAGNESIUM HYDROXIDE [Suspect]
     Active Substance: MAGNESIUM HYDROXIDE
     Dosage: 2488 MILLIGRAMS 2 EVERY 1 DAY
     Route: 065
  205. MAGNESIUM HYDROXIDE [Suspect]
     Active Substance: MAGNESIUM HYDROXIDE
     Dosage: 311.0 MILLIGRAM
     Route: 065
  206. MAGNESIUM HYDROXIDE [Suspect]
     Active Substance: MAGNESIUM HYDROXIDE
     Dosage: 622.0 MILLIGRAM
     Route: 065
  207. MORPHINE SULFATE [Suspect]
     Active Substance: MORPHINE SULFATE
     Indication: Fibromyalgia
     Dosage: (DOSAGE FORM: NOT SPECIFIED), UNSPECIFIED DOSE AND FREQUENCY
     Route: 065
  208. MORPHINE SULFATE [Suspect]
     Active Substance: MORPHINE SULFATE
     Indication: Dyspnoea
     Dosage: (DOSAGE FORM: NOT SPECIFIED) 10 MILLIGRAM (MG) 1 EVERY 1 DAYS
     Route: 065
  209. MORPHINE SULFATE [Suspect]
     Active Substance: MORPHINE SULFATE
     Indication: Pain
     Dosage: 2 DOSAGE FORMS 1 EVERY 1 DAYS
     Route: 065
  210. MORPHINE SULFATE [Suspect]
     Active Substance: MORPHINE SULFATE
     Indication: Chest pain
     Dosage: 1 DOSAGE FORMS 1 EVERY 1 DAYS
     Route: 065
  211. MORPHINE SULFATE [Suspect]
     Active Substance: MORPHINE SULFATE
     Dosage: (DOSAGE FORM: NOT SPECIFIED) 10 MILLIGRAM (MG) 1 EVERY 1 DAYS
     Route: 030
  212. MORPHINE SULFATE [Suspect]
     Active Substance: MORPHINE SULFATE
     Dosage: (DOSAGE FORM: NOT SPECIFIED) 10 MILLIGRAM (MG) 1 EVERY 24 HOURS
     Route: 065
  213. MORPHINE SULFATE [Suspect]
     Active Substance: MORPHINE SULFATE
     Dosage: 10 MILLIGRAM (MG) 1 EVERY 24 HOURS
     Route: 030
  214. MORPHINE SULFATE [Suspect]
     Active Substance: MORPHINE SULFATE
     Dosage: 1 DOSAGE FORMS 1 EVERY 24 HOURS
     Route: 065
  215. MORPHINE SULFATE [Suspect]
     Active Substance: MORPHINE SULFATE
     Dosage: 2 DOSAGE FORMS 1 EVERY 24 HOURS
     Route: 065
  216. MORPHINE SULFATE [Suspect]
     Active Substance: MORPHINE SULFATE
     Dosage: 20 MILLIGRAM 1 EVERY 24 HOURS
     Route: 030
  217. MORPHINE SULFATE [Suspect]
     Active Substance: MORPHINE SULFATE
     Dosage: 10 MILLIGRAMS 1 EVERY 1 DAY (DOSAGE FORM: PROLONGED-REALEASE CAPSULE, HARD)
     Route: 065
  218. MORPHINE SULFATE [Suspect]
     Active Substance: MORPHINE SULFATE
     Dosage: 10 MILLIGRAMS AT AN UNSPECIFIED FREQUENCY (DOSAGE FORM: PROLONGED-REALEASE CAPSULE, HARD)
     Route: 065
  219. MORPHINE SULFATE [Suspect]
     Active Substance: MORPHINE SULFATE
     Dosage: 1 DOSAGE FORM 1 EVERY 1 DAY  (DOSAGE FORM: PROLONGED-REALEASE CAPSULE, HARD)
     Route: 065
  220. MORPHINE SULFATE [Suspect]
     Active Substance: MORPHINE SULFATE
     Dosage: 2 DOSAGE FORM 1 EVERY 1 DAY  (DOSAGE FORM: PROLONGED-REALEASE CAPSULE, HARD)
     Route: 065
  221. MORPHINE SULFATE [Suspect]
     Active Substance: MORPHINE SULFATE
     Dosage: 100 MILLIGRAMS 1 EVERY 1 DAY (DOSAGE FORM: PROLONGED-REALEASE CAPSULE, HARD)
     Route: 065
  222. OMEPRAZOLE MAGNESIUM [Suspect]
     Active Substance: OMEPRAZOLE MAGNESIUM
     Indication: Duodenal ulcer
     Dosage: AT AN UNSPECIFIED DOSE AND FREQUENCY
     Route: 065
  223. OMEPRAZOLE MAGNESIUM [Suspect]
     Active Substance: OMEPRAZOLE MAGNESIUM
     Indication: Small intestine carcinoma
     Dosage: 20 MILLIGRAM 1 EVERY 1 DAYS
     Route: 048
  224. OMEPRAZOLE MAGNESIUM [Suspect]
     Active Substance: OMEPRAZOLE MAGNESIUM
     Indication: Hypertension
     Dosage: 20 MILLIGRAM 1 EVERY 12 HOURS
     Route: 048
  225. OMEPRAZOLE MAGNESIUM [Suspect]
     Active Substance: OMEPRAZOLE MAGNESIUM
     Indication: Coronary artery disease
     Dosage: AT AN UNSPECIFIED DOSE 1 EVERY 12 HOURS
     Route: 048
  226. OMEPRAZOLE MAGNESIUM [Suspect]
     Active Substance: OMEPRAZOLE MAGNESIUM
     Indication: Chest pain
  227. OMEPRAZOLE MAGNESIUM [Suspect]
     Active Substance: OMEPRAZOLE MAGNESIUM
     Indication: Angina pectoris
  228. OXAZEPAM [Suspect]
     Active Substance: OXAZEPAM
     Indication: Insomnia
     Dosage: AT AN UNSPECIFIED DOSE AND FREQUENCY
     Route: 065
  229. OXAZEPAM [Suspect]
     Active Substance: OXAZEPAM
     Indication: Hypertension
     Dosage: 15 MILLIGRAM (MG) 1 EVERY 1 DAYS
     Route: 065
  230. OXAZEPAM [Suspect]
     Active Substance: OXAZEPAM
     Indication: Coronary artery disease
     Dosage: 40 MILLIGRAM (MG) 1 EVERY 1 DAYS
     Route: 065
  231. OXAZEPAM [Suspect]
     Active Substance: OXAZEPAM
     Indication: Angina pectoris
     Dosage: AT AN UNSPECIFIED DOSE AND FREQUENCY (DOSAGE FORM: TABLET)
     Route: 065
  232. OXAZEPAM [Suspect]
     Active Substance: OXAZEPAM
     Indication: Duodenal ulcer
     Dosage: 20 MILLIGRAM 1 EVERY 24 HOURS (DOSAGE FORM: TABLET)
     Route: 065
  233. OXAZEPAM [Suspect]
     Active Substance: OXAZEPAM
     Indication: Cerebrovascular accident
     Dosage: 40 MILLIGRAM 1 EVERY 24 HOURS (DOSAGE FORM: TABLET)
     Route: 065
  234. OXAZEPAM [Suspect]
     Active Substance: OXAZEPAM
     Dosage: 15 MILLIGRAM 1 EVERY 24 HOURS (DOSAGE FORM: TABLET)
     Route: 065
  235. OXAZEPAM [Suspect]
     Active Substance: OXAZEPAM
     Dosage: 360.0 MILLIGRAM, 1 EVERY 1 DAYS
     Route: 065
  236. QUINAPRIL HYDROCHLORIDE [Suspect]
     Active Substance: QUINAPRIL HYDROCHLORIDE
     Indication: Hypertension
     Dosage: AT AN UNSPECIFIED DOSE AND FREQUENCY
     Route: 065
  237. QUINAPRIL HYDROCHLORIDE [Suspect]
     Active Substance: QUINAPRIL HYDROCHLORIDE
     Indication: Coronary artery disease
     Dosage: 40 MILLIGRAM 1 EVERY 1 DAYS (DOSAGE FORM: FILM COATED TABLETS)
     Route: 048
  238. QUINAPRIL HYDROCHLORIDE [Suspect]
     Active Substance: QUINAPRIL HYDROCHLORIDE
     Indication: Seizure prophylaxis
     Dosage: 40 MILLIGRAM 1 EVERY 1 DAYS
     Route: 065
  239. QUINAPRIL HYDROCHLORIDE [Suspect]
     Active Substance: QUINAPRIL HYDROCHLORIDE
     Indication: Seizure
     Dosage: 20 MILLIGRAM 1 EVERY 24 HOURS
     Route: 065
  240. QUINAPRIL HYDROCHLORIDE [Suspect]
     Active Substance: QUINAPRIL HYDROCHLORIDE
     Indication: Pain
     Dosage: AT AN UNSPECIFIED DOSE AND FREQUENCY (DOSAGE FORM: FILM-COATED TABLET)
     Route: 065
  241. QUINAPRIL HYDROCHLORIDE [Suspect]
     Active Substance: QUINAPRIL HYDROCHLORIDE
     Indication: Insomnia
     Dosage: 40 MILLIGRAM 1 EVERY 24 HOURS (DOSAGE FORM: FILM-COATED TABLET)
     Route: 065
  242. QUINAPRIL HYDROCHLORIDE [Suspect]
     Active Substance: QUINAPRIL HYDROCHLORIDE
     Indication: Chest pain
     Dosage: 400 MILLIGRAM1 EVERY 24 HOURS (DOSAGE FORM: FILM-COATED TABLET)
     Route: 065
  243. QUINAPRIL HYDROCHLORIDE [Suspect]
     Active Substance: QUINAPRIL HYDROCHLORIDE
     Indication: Angina pectoris
     Dosage: 800 MILLIGRAMS 1 EVERY 24 HOURS ( DOSAGE FORM: FILM-COATED TABLET)
     Route: 065
  244. QUINAPRIL HYDROCHLORIDE [Suspect]
     Active Substance: QUINAPRIL HYDROCHLORIDE
     Indication: Cerebrovascular accident
     Dosage: 20 MILLIGRAMS 1 EVERY 12HOURS ( DOSAGE FORM: FILM-COATED TABLET)
     Route: 065
  245. QUINAPRIL HYDROCHLORIDE [Suspect]
     Active Substance: QUINAPRIL HYDROCHLORIDE
     Indication: Fibromyalgia
     Dosage: 200MILLIGRAMS 1 EVERY 12HOURS ( DOSAGE FORM: FILM-COATED TABLET)
     Route: 065
  246. QUINAPRIL HYDROCHLORIDE [Suspect]
     Active Substance: QUINAPRIL HYDROCHLORIDE
     Indication: Coronary artery dilatation
     Dosage: 20 MILLIGRAMS 1 EVERY 24HOURS (DOSAGE FORM: TABLET)
     Route: 065
  247. QUINAPRIL HYDROCHLORIDE [Suspect]
     Active Substance: QUINAPRIL HYDROCHLORIDE
     Dosage: 40 MILLIGRAM 1 EVERY 24 HOURS (DOSAGE FORM: TABLET)
     Route: 065
  248. QUINAPRIL HYDROCHLORIDE [Suspect]
     Active Substance: QUINAPRIL HYDROCHLORIDE
     Dosage: 200 MILLIGRAMS 1 EVERY 6 HOURS (DOSAGE FORM: TABLET)
     Route: 065
  249. QUINAPRIL HYDROCHLORIDE [Suspect]
     Active Substance: QUINAPRIL HYDROCHLORIDE
     Dosage: 20 MILLIGRAM 1 EVERY 24 HOURS (DOSAGE FORM: FILMCOATED TABLET)
     Route: 065
  250. QUINAPRIL HYDROCHLORIDE [Suspect]
     Active Substance: QUINAPRIL HYDROCHLORIDE
     Dosage: 20 MILLIGRAMS 2 EVERY 1 DAY (DOSAGE FORM: TABLET, FILM COATED)
     Route: 065
  251. QUINAPRIL HYDROCHLORIDE [Suspect]
     Active Substance: QUINAPRIL HYDROCHLORIDE
     Dosage: 200 MILLIGRAMS 1 EVERY 1 DAY (DOSAGE FORM: TABLET, FILM COATED)
     Route: 065
  252. ROSUVASTATIN CALCIUM [Suspect]
     Active Substance: ROSUVASTATIN CALCIUM
     Indication: Cerebrovascular accident
     Dosage: 20 MILLIGRAM, 1 EVERY 12 HOURS
     Route: 048
  253. ROSUVASTATIN CALCIUM [Suspect]
     Active Substance: ROSUVASTATIN CALCIUM
     Indication: Insomnia
     Dosage: 0.5 MILLIGRAM 1 EVERY 1 DAYS
     Route: 048
  254. ROSUVASTATIN CALCIUM [Suspect]
     Active Substance: ROSUVASTATIN CALCIUM
     Indication: Hypertension
     Dosage: 20 MILLIGRAM AT UNSPECIFIED FREQUENCY
     Route: 048
  255. ROSUVASTATIN CALCIUM [Suspect]
     Active Substance: ROSUVASTATIN CALCIUM
     Indication: Coronary artery disease
     Dosage: 40 MILLIGRAM AT UNSPECIFIED FREQUENCY
     Route: 065
  256. ROSUVASTATIN CALCIUM [Suspect]
     Active Substance: ROSUVASTATIN CALCIUM
     Indication: Chronic obstructive pulmonary disease
     Dosage: 20 MILLIGRAM, 1 EVERY 1 DAYS
     Route: 065
  257. ROSUVASTATIN CALCIUM [Suspect]
     Active Substance: ROSUVASTATIN CALCIUM
     Indication: Chest pain
     Dosage: 20 MILLIGRAM, 2 EVERY 1 DAYS
     Route: 065
  258. ROSUVASTATIN CALCIUM [Suspect]
     Active Substance: ROSUVASTATIN CALCIUM
     Indication: Angina pectoris
     Dosage: 200 MILLIGRAM, 1 EVERY 12 HOURS
     Route: 048
  259. ROSUVASTATIN CALCIUM [Suspect]
     Active Substance: ROSUVASTATIN CALCIUM
     Dosage: 0.5 MILLIGRAM, 1 EVERY 1 DAYS
     Route: 065
  260. ROSUVASTATIN CALCIUM [Suspect]
     Active Substance: ROSUVASTATIN CALCIUM
     Dosage: AT UNSPECIFIED DOSE AND FREQUENCY
     Route: 048
  261. ROSUVASTATIN CALCIUM [Suspect]
     Active Substance: ROSUVASTATIN CALCIUM
     Dosage: 200 MILLIGRAM AT UNSPECIFIED FREQUENCY
     Route: 065
  262. ROSUVASTATIN CALCIUM [Suspect]
     Active Substance: ROSUVASTATIN CALCIUM
     Dosage: 40 MILLIGRAMS 1 EVERY 24 HOURS (DOSAGE FORM: TABLET)
     Route: 048
  263. ROSUVASTATIN CALCIUM [Suspect]
     Active Substance: ROSUVASTATIN CALCIUM
     Dosage: 200 MILLIGRAMS 1 EVERY 6 HOURS (DOSAGE FORM: FILM-COATED TABLET)
     Route: 065
  264. ROSUVASTATIN CALCIUM [Suspect]
     Active Substance: ROSUVASTATIN CALCIUM
     Dosage: 10 MILLIGRAM 1 EVERY 12 HOURS (DOSAGE FORM: FILM- COATED TABLET)
     Route: 065
  265. ROSUVASTATIN CALCIUM [Suspect]
     Active Substance: ROSUVASTATIN CALCIUM
     Dosage: AT UNSPECIFIED DOSE AND FREQUENCY (DOSAGE FORM: TABLET)
     Route: 058
  266. ROSUVASTATIN CALCIUM [Suspect]
     Active Substance: ROSUVASTATIN CALCIUM
     Dosage: 20 MILLIGRAM, 1 EVERY 1 DAYS (DOSAGE FORM: TABLET)
     Route: 048
  267. ROSUVASTATIN CALCIUM [Suspect]
     Active Substance: ROSUVASTATIN CALCIUM
     Dosage: 400 MILLIGRAMS AT AN UNSPECIFIED FREQUENCY (DOSAGE FORM: TABLET)
     Route: 048
  268. ROSUVASTATIN CALCIUM [Suspect]
     Active Substance: ROSUVASTATIN CALCIUM
     Dosage: 200 MILLIGRAMS AT AN UNSPECIFIED FREQUENCY (DOSAGE FORM: TABLET)
     Route: 048
  269. ROSUVASTATIN CALCIUM [Suspect]
     Active Substance: ROSUVASTATIN CALCIUM
     Dosage: 30 MILLIGRAMS 1 EVERY 1 DAY (DOSAGE FORM: TABLET)
     Route: 048
  270. ROSUVASTATIN CALCIUM [Suspect]
     Active Substance: ROSUVASTATIN CALCIUM
     Dosage: 1.67 MILLIGRAMS AT AN UNSPECIFIED FREQUENCY (DOSAGE FORM: TABLET)
     Route: 048
  271. ROSUVASTATIN CALCIUM [Suspect]
     Active Substance: ROSUVASTATIN CALCIUM
     Dosage: AT AN UNSPECIFIED DOSE, 1 EVERY 12 HOURS
     Route: 048
  272. ROSUVASTATIN CALCIUM [Suspect]
     Active Substance: ROSUVASTATIN CALCIUM
     Dosage: 10.0 MILLIGRAM, 1 EVERY 1 DAYS
     Route: 048
  273. ROSUVASTATIN CALCIUM [Suspect]
     Active Substance: ROSUVASTATIN CALCIUM
     Dosage: 400.0 MILLIGRAM 1 EVERY 1 DAYS
     Route: 065
  274. ALBUTEROL [Suspect]
     Active Substance: ALBUTEROL
     Indication: Hypertension
     Dosage: AT AN UNSPECIFIED DOSE AND FREQUENCY (DOSAGE FORM: NOT SPECIFIED)
     Route: 065
  275. ALBUTEROL [Suspect]
     Active Substance: ALBUTEROL
     Indication: Coronary artery disease
     Dosage: 200 MICROGRAM 1 EVERY 6 HOURS
     Route: 065
  276. ALBUTEROL [Suspect]
     Active Substance: ALBUTEROL
     Indication: Angina pectoris
     Dosage: 100 MILLIGRAM 1 EVERY 1 DAYS
     Route: 065
  277. ALBUTEROL [Suspect]
     Active Substance: ALBUTEROL
     Indication: Chest pain
     Dosage: 400 MICROGRAM 1 EVERY 6 HOURS
     Route: 065
  278. ALBUTEROL [Suspect]
     Active Substance: ALBUTEROL
     Indication: Chronic obstructive pulmonary disease
     Dosage: 800 MILLIGRAMS 1 EVERY 24 HOURS
     Route: 065
  279. ALBUTEROL [Suspect]
     Active Substance: ALBUTEROL
     Dosage: 400 MILLIGRAMS 1 EVERY 24 HOURS
     Route: 065
  280. ALBUTEROL [Suspect]
     Active Substance: ALBUTEROL
     Dosage: 400 MILLIGRAMS 1 EVERY 6 HOURS
     Route: 065
  281. ALBUTEROL [Suspect]
     Active Substance: ALBUTEROL
     Dosage: 200 MILLIGRAM 1EVERY 8 HOURS
     Route: 065
  282. ALBUTEROL [Suspect]
     Active Substance: ALBUTEROL
     Dosage: 200 MICROGRAM 1 EVERY 12 HOURS
  283. ALBUTEROL [Suspect]
     Active Substance: ALBUTEROL
     Dosage: 400 MICROGRAMS 1 EVERY 6 HOURS
     Route: 065
  284. ALBUTEROL [Suspect]
     Active Substance: ALBUTEROL
     Dosage: 100 MICROGRAMS 1 EVERY 12 HOURS
     Route: 065
  285. ALBUTEROL [Suspect]
     Active Substance: ALBUTEROL
     Dosage: 100 MICROGRAMS 1 EVERY 24 HOURS
     Route: 065
  286. ALBUTEROL [Suspect]
     Active Substance: ALBUTEROL
     Dosage: AT AN UNSPECIFIED DOSE 1 EVERY 1 DAY (DOSAGE FORM: TABLET)
     Route: 065
  287. ALBUTEROL [Suspect]
     Active Substance: ALBUTEROL
     Dosage: 400 MILLIGRAMS AT AN UNSPECIFIED DOSE AND FREQUENCY (DOSAGE FORM: TABLET)
     Route: 065
  288. ALBUTEROL [Suspect]
     Active Substance: ALBUTEROL
     Dosage: AT AN UNSPECIFIED DOSE 3 EVERY 1 DAY (DOSAGE FORM: TABLET)
     Route: 065
  289. ALBUTEROL [Suspect]
     Active Substance: ALBUTEROL
     Dosage: 800 MILLIGRAMS AT AN UNSPECIFIED FREQUENCY (DOSAGE FORM: TABLET)
     Route: 065
  290. ALBUTEROL [Suspect]
     Active Substance: ALBUTEROL
     Dosage: 400 MILLIGRAMS 1 EVERY 1 DAY (DOSAGE FORM: TABLET)
     Route: 065
  291. ALBUTEROL [Suspect]
     Active Substance: ALBUTEROL
     Dosage: AT AN UNSPECIFIED DOSE 4 EVERY 1 DAY (DOSAGE FORM: TABLET)
     Route: 065
  292. ALBUTEROL [Suspect]
     Active Substance: ALBUTEROL
     Dosage: 200.0 MILLIGRAM (DOSAGE FORM: NOT SPECIFIED)
     Route: 065
  293. ALBUTEROL [Suspect]
     Active Substance: ALBUTEROL
     Dosage: 500.0 MILLIGRAM, 1 EVERY 1 DAYS
     Route: 065
  294. TIOTROPIUM [Suspect]
     Active Substance: TIOTROPIUM
     Indication: Chronic obstructive pulmonary disease
     Dosage: AT AN UNSPECIFIED DOSE AND FREQUENCY
     Route: 065
  295. TIOTROPIUM [Suspect]
     Active Substance: TIOTROPIUM
     Indication: Asthma
  296. NITROGLYCERIN [Suspect]
     Active Substance: NITROGLYCERIN
     Indication: Coronary artery disease
     Dosage: (DOSAGE FORM: NOT SPECIFIED) UNSPECIFIED DOSE AND FREQUENCY
     Route: 065
  297. NITROGLYCERIN [Suspect]
     Active Substance: NITROGLYCERIN
     Indication: Angina pectoris
     Dosage: (DOSAGE FORM: NOT SPECIFIED) 0.4 MILLIGRAMS AT AN UNSPECIFIED FREQUENCY
     Route: 065
  298. NITROGLYCERIN [Suspect]
     Active Substance: NITROGLYCERIN
     Indication: Hypertension
     Dosage: 0.6 MILLIGRAM 1 EVERY 1 DAYS (DOSAGE FORMS: TABLET)
     Route: 065
  299. NITROGLYCERIN [Suspect]
     Active Substance: NITROGLYCERIN
     Indication: Chest pain
     Dosage: 1 DOSAGE FROMS 1 EVERY 1 DAYS
     Route: 065
  300. NITROGLYCERIN [Suspect]
     Active Substance: NITROGLYCERIN
     Dosage: 1 DOSAGE FORMEVERY 24 HOURS (DOSAGE FORM: NOT SPECIFIED)
     Route: 065
  301. NITROGLYCERIN [Suspect]
     Active Substance: NITROGLYCERIN
     Dosage: 0.4 MILLIGRAMS 1 EVERY 24 HOURS
     Route: 065
  302. NITROGLYCERIN [Suspect]
     Active Substance: NITROGLYCERIN
     Dosage: 6.0 MILLIGRAMS 1 EVERY 24 HOURS
     Route: 061
  303. NITROGLYCERIN [Suspect]
     Active Substance: NITROGLYCERIN
     Dosage: 0.6 MILLIGRAMS 1 EVERY 24 HOURS
     Route: 065
  304. NITROGLYCERIN [Suspect]
     Active Substance: NITROGLYCERIN
     Dosage: 0.1 DOSAGE FORM 1 EVERY 24 HOURS
     Route: 065
  305. NITROGLYCERIN [Suspect]
     Active Substance: NITROGLYCERIN
     Dosage: 20 MILLIGRAMS 1 EVERY 24 HOURS
     Route: 065
  306. NITROGLYCERIN [Suspect]
     Active Substance: NITROGLYCERIN
     Dosage: 1 DOSAGE FORM 1 EVERY 1 DAY (DOSAGE FORM: TRANSDERMAL PATCH)
     Route: 065
  307. NITROGLYCERIN [Suspect]
     Active Substance: NITROGLYCERIN
     Dosage: 0.6 MILLIGRAMS AT AN UNSPECIFIED FREQUENCY (DOSAGE FORM: TRANSDERMAL PATCH)
     Route: 065
  308. NITROGLYCERIN [Suspect]
     Active Substance: NITROGLYCERIN
     Dosage: 0.6 MILLIGRAMS 1 EVERY 1 DAY (DOSAGE FORM: TRANSDERMAL PATCH)
     Route: 061
  309. NITROGLYCERIN [Suspect]
     Active Substance: NITROGLYCERIN
     Dosage: 0.4 MILLIGRAMS 1 EVERY 1 DAY (DOSAGE FORM: TRANSDERMAL PATCH)
     Route: 061
  310. NITROGLYCERIN [Suspect]
     Active Substance: NITROGLYCERIN
     Dosage: 40 MILLIGRAMS 1 EVERY 1 DAY (DOSAGE FORM: TRANSDERMAL PATCH)
     Route: 065
  311. NITROGLYCERIN [Suspect]
     Active Substance: NITROGLYCERIN
     Dosage: 0.4 MILLIGRAMS AT AN UNSPECIFIED FREQUENCY (DOSAGE FORM: TRANSDERMAL PATCH)
     Route: 061
  312. NITROGLYCERIN [Suspect]
     Active Substance: NITROGLYCERIN
     Dosage: AT AN UNSPECIFIED DOSE AND FREQUENCY
     Route: 065
  313. NITROGLYCERIN [Suspect]
     Active Substance: NITROGLYCERIN
     Dosage: AT AN UNSPECIFIED DOSE AND FREQUENCY
     Route: 065
  314. ACETAMINOPHEN\CODEINE PHOSPHATE [Suspect]
     Active Substance: ACETAMINOPHEN\CODEINE PHOSPHATE
     Indication: Product used for unknown indication
     Dosage: AT UNSPECIFIED DOSE AND FREQUENCY
     Route: 065
  315. AGGRENOX [Suspect]
     Active Substance: ASPIRIN\DIPYRIDAMOLE
     Indication: Cerebrovascular accident
     Dosage: 2.0 DOSAGE FORMS 1 EVERY 1 DAYS
     Route: 065
  316. AGGRENOX [Suspect]
     Active Substance: ASPIRIN\DIPYRIDAMOLE
     Indication: Hypertension
     Dosage: (DOSAGE FORMS: CAPSULE IMMEDIATE AND EXTENDED RELEASE) 2.0 DOSAGE FORMS AT AN UNSPECIFIED FREQUENCY
     Route: 065
  317. AGGRENOX [Suspect]
     Active Substance: ASPIRIN\DIPYRIDAMOLE
     Indication: Arthritis
     Dosage: 2.0 DOSAGE FORMS AT AN UNSPECIFIED FREQUENCY
     Route: 065
  318. AGGRENOX [Suspect]
     Active Substance: ASPIRIN\DIPYRIDAMOLE
     Dosage: 1.0 DOSAGE FORMS 2 EVERY 1 DAYS
     Route: 065
  319. AGGRENOX [Suspect]
     Active Substance: ASPIRIN\DIPYRIDAMOLE
     Dosage: AT AN UNSPECIFIED DOSE AND FREQUENCY
     Route: 065
  320. AGGRENOX [Suspect]
     Active Substance: ASPIRIN\DIPYRIDAMOLE
     Dosage: 1.0 DOSAGE FORM 1 EVERY 12 HOURS (DOSAGE FORM: CAPSULE)
     Route: 065
  321. AGGRENOX [Suspect]
     Active Substance: ASPIRIN\DIPYRIDAMOLE
     Dosage: 50.0 DOSAGE FORMS 1 EVERY 1 DAY (DOSAGE FORM: CAPSULE)
     Route: 065
  322. AGGRENOX [Suspect]
     Active Substance: ASPIRIN\DIPYRIDAMOLE
     Dosage: AT AN UNSPECIFIED DOSE 1 EVERY 12 HOURS (DOSAGE FORM: CAPSULE IMMEDIATE AND EXTENDED RELEASE)
     Route: 065
  323. AGGRENOX [Suspect]
     Active Substance: ASPIRIN\DIPYRIDAMOLE
     Dosage: AT AN UNSPECIFIED DOSE AND FREQUENCY (DOSAGE FORM: CAPSULES)
     Route: 065
  324. AGGRENOX [Suspect]
     Active Substance: ASPIRIN\DIPYRIDAMOLE
     Dosage: 75.0 MILLIGRAM 1 EVERY 1 DAYS
     Route: 065
  325. AGGRENOX [Suspect]
     Active Substance: ASPIRIN\DIPYRIDAMOLE
     Dosage: 2.0 DOSAGE FORMS 1 EVERY 1 WEEKS
     Route: 065
  326. AGGRENOX [Suspect]
     Active Substance: ASPIRIN\DIPYRIDAMOLE
     Dosage: 500.0 MILLIGRAM 1 EVERY 1 DAYS
     Route: 065
  327. AGGRENOX [Suspect]
     Active Substance: ASPIRIN\DIPYRIDAMOLE
     Dosage: 4.0 DOSAGE FORMS 1 EVERY 1 DAYS
     Route: 065
  328. AGGRENOX [Suspect]
     Active Substance: ASPIRIN\DIPYRIDAMOLE
     Dosage: 1.0 DOSAGE FORMS 1 EVERY 1 DAYS
     Route: 065
  329. AGGRENOX [Suspect]
     Active Substance: ASPIRIN\DIPYRIDAMOLE
     Dosage: 1.0 DOSAGE FORMS
     Route: 065
  330. AMITRIPTYLINE HYDROCHLORIDE [Suspect]
     Active Substance: AMITRIPTYLINE HYDROCHLORIDE
     Indication: Duodenal ulcer
     Dosage: 75 MILLIGRAM 1 EVERY 1 DAYS
     Route: 065
  331. AMLODIPINE BESYLATE [Suspect]
     Active Substance: AMLODIPINE BESYLATE
     Indication: Hypertension
     Dosage: 5.0 MILLIGRAM, 1 EVERY 1 DAYS
     Route: 065
  332. AMLODIPINE BESYLATE [Suspect]
     Active Substance: AMLODIPINE BESYLATE
     Indication: Coronary artery disease
     Dosage: AT AN UNSPECIFIED DOSE AND FREQUENCY
     Route: 065
  333. AMLODIPINE BESYLATE [Suspect]
     Active Substance: AMLODIPINE BESYLATE
     Indication: Constipation
  334. AMLODIPINE BESYLATE [Suspect]
     Active Substance: AMLODIPINE BESYLATE
     Indication: Chest pain
  335. AMLODIPINE BESYLATE [Suspect]
     Active Substance: AMLODIPINE BESYLATE
     Indication: Angina pectoris
  336. AMITRIPTYLINE [Suspect]
     Active Substance: AMITRIPTYLINE
     Indication: Insomnia
     Dosage: 75 MILLIGRAM, 1 EVERY 1 DAYS
     Route: 065
  337. AMITRIPTYLINE [Suspect]
     Active Substance: AMITRIPTYLINE
     Dosage: AT AN UNSPECIFIED DOSE AND FREQUENCY (DOSAGE FORM: TABLET)
     Route: 065
  338. CARBAMAZEPINE [Suspect]
     Active Substance: CARBAMAZEPINE
     Indication: Prophylaxis
     Dosage: 200 MILLIGRAM 2 EVERY 1 DAYS (DOSAGE FORMS: NOT SPECIFIED)
     Route: 065
  339. CARBAMAZEPINE [Suspect]
     Active Substance: CARBAMAZEPINE
     Indication: Seizure prophylaxis
     Dosage: 400.0 MILLIGRAM, 1 EVERY 1 DAYS
     Route: 065
  340. CARBAMAZEPINE [Suspect]
     Active Substance: CARBAMAZEPINE
     Indication: Fibromyalgia
     Dosage: 200.0 MILLIGRAM, 1 EVERY 12 HOURS
     Route: 065
  341. CARBAMAZEPINE [Suspect]
     Active Substance: CARBAMAZEPINE
     Dosage: 200.0 MILLIGRAM, 1 EVERY 12 HOURS
     Route: 065
  342. CARBAMAZEPINE [Suspect]
     Active Substance: CARBAMAZEPINE
     Dosage: AT AN UNSPECIFIED DOSE AND FREQUENCY (DOSAGE FORM: PROLONGED-RELEASE TABLET)
     Route: 065
  343. CARBAMAZEPINE [Suspect]
     Active Substance: CARBAMAZEPINE
     Dosage: AT AN UNSPECIFIED DOSE AND FREQUENCY (DOSAGE FORM: NOT SPECIFIED)
     Route: 065
  344. CARBAMAZEPINE [Suspect]
     Active Substance: CARBAMAZEPINE
     Dosage: 5.0 MILLIGRAM, 1 EVERY 8 HOURS
     Route: 065
  345. CARBAMAZEPINE [Suspect]
     Active Substance: CARBAMAZEPINE
     Dosage: 200.0 MILLIGRAM, AT AN UNSPECIFIED FREQUENCY (DOSAGE FORM: PROLONGED-RELEASE TABLET)
     Route: 065
  346. CYCLOBENZAPRINE [Suspect]
     Active Substance: CYCLOBENZAPRINE
     Indication: Seizure prophylaxis
     Dosage: AT AN UNSPECIFIED DOSE AND FREQUENCY
     Route: 065
  347. CYCLOBENZAPRINE [Suspect]
     Active Substance: CYCLOBENZAPRINE
     Indication: Pain
     Dosage: 2 MILLIGRAM AT AN USNPECIFIED FREQUENCY (DOSAGE FORM: TABLET)
     Route: 065
  348. CYCLOBENZAPRINE [Suspect]
     Active Substance: CYCLOBENZAPRINE
     Indication: Fibromyalgia
     Dosage: 15 MILLIGRAM 3 EVERY 1 DAY (DOSAGE FORM: TABLET)
     Route: 065
  349. CYCLOBENZAPRINE [Suspect]
     Active Substance: CYCLOBENZAPRINE
     Dosage: 100 MILLIGRAMS AT AN UNSPECIFIED FREQUENCY
     Route: 065
  350. CYCLOBENZAPRINE [Suspect]
     Active Substance: CYCLOBENZAPRINE
     Dosage: 5 MILLIGRAM 3 EVERY 1 DAY (DOSAGE FORM: TABLET)
     Route: 065
  351. CYCLOBENZAPRINE [Suspect]
     Active Substance: CYCLOBENZAPRINE
     Dosage: 5 MILLIGRAM AT NA UNSPECIFIED FREQUENCY
     Route: 065
  352. CYCLOBENZAPRINE [Suspect]
     Active Substance: CYCLOBENZAPRINE
     Indication: Seizure prophylaxis
     Dosage: 5.0 MILLIGRAM, 1 EVERY 1 HOURS
     Route: 065
  353. CYCLOBENZAPRINE [Suspect]
     Active Substance: CYCLOBENZAPRINE
     Indication: Pain
     Dosage: AT AN UNSPECIFIED DOSE AND FREQUENCY (DOSAGE FORM: NOT SPECIFIED)
     Route: 065
  354. CYCLOBENZAPRINE [Suspect]
     Active Substance: CYCLOBENZAPRINE
     Indication: Fibromyalgia
     Dosage: 5.0 MILLIGRAM, 1 EVERY 8 HOURS
     Route: 065
  355. DILTIAZEM HYDROCHLORIDE [Suspect]
     Active Substance: DILTIAZEM HYDROCHLORIDE
     Indication: Hypertension
     Dosage: 500 MILLIGRAM 1 EVERY 1 DAYS
     Route: 065
  356. DILTIAZEM HYDROCHLORIDE [Suspect]
     Active Substance: DILTIAZEM HYDROCHLORIDE
     Indication: Coronary artery disease
     Dosage: 360 MILLIGRAM 1 EVERY 1 DAYS
     Route: 065
  357. DILTIAZEM HYDROCHLORIDE [Suspect]
     Active Substance: DILTIAZEM HYDROCHLORIDE
     Indication: Chest pain
     Dosage: 500 MILLIGRAM 1 EVERY 1 DAYS (DOSAGE FORM: NOT SPECIFIED)
     Route: 065
  358. DILTIAZEM HYDROCHLORIDE [Suspect]
     Active Substance: DILTIAZEM HYDROCHLORIDE
     Indication: Angina pectoris
  359. OXAZEPAM [Suspect]
     Active Substance: OXAZEPAM
     Indication: Insomnia
     Dosage: 360 MILLIGRAM 1 EVERY 1 DAYS
     Route: 065
  360. OXAZEPAM [Suspect]
     Active Substance: OXAZEPAM
     Indication: Hypertension
     Dosage: AT AN UNSPECIFIED DOSE AND FREQUENCY
     Route: 065
  361. OXAZEPAM [Suspect]
     Active Substance: OXAZEPAM
     Indication: Coronary artery disease
     Dosage: 15 MILLIGRAMS 1 EVERY 1 DAY
     Route: 065
  362. ASPIRIN [Suspect]
     Active Substance: ASPIRIN
     Indication: Hypertension
     Dosage: (DOSAGE FORM: NOT SPECIFIED) AT AN UNSPECIFIED DOSE AND FREQUENCY
     Route: 065
  363. ASPIRIN [Suspect]
     Active Substance: ASPIRIN
     Indication: Coronary artery disease
     Dosage: AT AN UNSPECIFIED DOSE AND FREQUENCY
     Route: 065
  364. ASPIRIN [Suspect]
     Active Substance: ASPIRIN
     Indication: Angina pectoris
  365. CALCIUM CARBONATE [Suspect]
     Active Substance: CALCIUM CARBONATE
     Indication: Product used for unknown indication
     Dosage: AT UNSPECIFIED DOSE AND FREQUENCY (DOSAGE FORM: NOT SPECIFIED)
     Route: 065
  366. CYCLOBENZAPRINE HYDROCHLORIDE [Suspect]
     Active Substance: CYCLOBENZAPRINE HYDROCHLORIDE
     Indication: Pain
     Dosage: 5 MILLIGRAM 1 EVERY 12 HOURS
     Route: 065
  367. CYCLOBENZAPRINE HYDROCHLORIDE [Suspect]
     Active Substance: CYCLOBENZAPRINE HYDROCHLORIDE
     Indication: Fibromyalgia
     Dosage: 200 MILLIGRAM 1 EVERY 12 HOURS
     Route: 065
  368. CYCLOBENZAPRINE HYDROCHLORIDE [Suspect]
     Active Substance: CYCLOBENZAPRINE HYDROCHLORIDE
     Indication: Seizure prophylaxis
     Dosage: 5 MILLIGRAM 1 EVERY 1 DAY
     Route: 065
  369. CYCLOBENZAPRINE HYDROCHLORIDE [Suspect]
     Active Substance: CYCLOBENZAPRINE HYDROCHLORIDE
     Indication: Seizure
     Dosage: 1.87 MILLIGRAM AT AN UNSPECIFIED FREQUENCY
     Route: 065
  370. CYCLOBENZAPRINE HYDROCHLORIDE [Suspect]
     Active Substance: CYCLOBENZAPRINE HYDROCHLORIDE
     Dosage: 5 MILLIGRAM 1 EVERY 8 HOURS
     Route: 065
  371. CYCLOBENZAPRINE HYDROCHLORIDE [Suspect]
     Active Substance: CYCLOBENZAPRINE HYDROCHLORIDE
     Dosage: 200 MILLIGRAM 1 EVERY 12 HOURS
     Route: 065
  372. CYCLOBENZAPRINE HYDROCHLORIDE [Suspect]
     Active Substance: CYCLOBENZAPRINE HYDROCHLORIDE
     Dosage: 15 MILLIGRAM 1 EVERY 8 HOURS
     Route: 065
  373. CYCLOBENZAPRINE HYDROCHLORIDE [Suspect]
     Active Substance: CYCLOBENZAPRINE HYDROCHLORIDE
     Dosage: 1.87 MILLIGRAMS 1 EVERY 8 HOURS
     Route: 065
  374. CYCLOBENZAPRINE HYDROCHLORIDE [Suspect]
     Active Substance: CYCLOBENZAPRINE HYDROCHLORIDE
     Dosage: 2.0 MILLIGRAMS 1 EVERY 1 DAY
     Route: 065
  375. CYCLOBENZAPRINE HYDROCHLORIDE [Suspect]
     Active Substance: CYCLOBENZAPRINE HYDROCHLORIDE
     Dosage: 100 MILLIGRAMS 1 EVERY 12 HOURS
     Route: 065
  376. CYCLOBENZAPRINE HYDROCHLORIDE [Suspect]
     Active Substance: CYCLOBENZAPRINE HYDROCHLORIDE
     Dosage: 45 MILLIGRAMS 1 EVERY 1 DAY
     Route: 065
  377. CYCLOBENZAPRINE HYDROCHLORIDE [Suspect]
     Active Substance: CYCLOBENZAPRINE HYDROCHLORIDE
     Dosage: 500 MILLIGRAMS 3 EVERY 1 DAYS
     Route: 065
  378. CYCLOBENZAPRINE HYDROCHLORIDE [Suspect]
     Active Substance: CYCLOBENZAPRINE HYDROCHLORIDE
     Dosage: 15 MILLIGRAMS 3 EVERY 1 DAYS
     Route: 065
  379. CYCLOBENZAPRINE HYDROCHLORIDE [Suspect]
     Active Substance: CYCLOBENZAPRINE HYDROCHLORIDE
     Dosage: 1.87 MILLIGRAM 1 EVERY 1 DAY
     Route: 065
  380. CYCLOBENZAPRINE HYDROCHLORIDE [Suspect]
     Active Substance: CYCLOBENZAPRINE HYDROCHLORIDE
     Dosage: 200 MILLIGRAMS AT AN UNSPECIFED FREQUENCY
     Route: 065
  381. CYCLOBENZAPRINE HYDROCHLORIDE [Suspect]
     Active Substance: CYCLOBENZAPRINE HYDROCHLORIDE
     Dosage: AT AN UNSPECIFIED DOSE 3 EVERY 1 DAY
     Route: 065
  382. CYCLOBENZAPRINE HYDROCHLORIDE [Suspect]
     Active Substance: CYCLOBENZAPRINE HYDROCHLORIDE
     Dosage: 5 MILLIGRAMS AT AN UNSPECIFIED FREQUENCY
     Route: 065
  383. CYCLOBENZAPRINE HYDROCHLORIDE [Suspect]
     Active Substance: CYCLOBENZAPRINE HYDROCHLORIDE
     Dosage: 2.0 MILLIGRAMS AT AN UNSPECIFIED FREQUENCY
     Route: 065
  384. CYCLOBENZAPRINE HYDROCHLORIDE [Suspect]
     Active Substance: CYCLOBENZAPRINE HYDROCHLORIDE
     Dosage: 100 MILLIGRAMS 1 EVERY 1 DAY
     Route: 065
  385. CYCLOBENZAPRINE HYDROCHLORIDE [Suspect]
     Active Substance: CYCLOBENZAPRINE HYDROCHLORIDE
     Dosage: AT AN UNSPECIFIED DOSE 1 EVERY 1 DAY
     Route: 065
  386. CYCLOBENZAPRINE HYDROCHLORIDE [Suspect]
     Active Substance: CYCLOBENZAPRINE HYDROCHLORIDE
     Dosage: 5.61 MILLIGRAMS 1 EVERY 1 DAY
     Route: 065
  387. CYCLOBENZAPRINE HYDROCHLORIDE [Suspect]
     Active Substance: CYCLOBENZAPRINE HYDROCHLORIDE
     Dosage: 15 MILLIGRAMS AT AN UNSPECIFIED FREQUENCY
     Route: 065
  388. CYCLOBENZAPRINE HYDROCHLORIDE [Suspect]
     Active Substance: CYCLOBENZAPRINE HYDROCHLORIDE
     Dosage: AT AN UNSPECIFIED DOSE 2 EVERY 1 DAY
     Route: 065
  389. CYCLOBENZAPRINE HYDROCHLORIDE [Suspect]
     Active Substance: CYCLOBENZAPRINE HYDROCHLORIDE
     Dosage: AT AN UNSPECIFIED DOSE AND FREQUENCY
     Route: 058
  390. CYCLOBENZAPRINE HYDROCHLORIDE [Suspect]
     Active Substance: CYCLOBENZAPRINE HYDROCHLORIDE
     Dosage: 0.63 MILLIGRAMS AT AN UNSPECIFIED DOSE AND FREQUENCY
     Route: 065
  391. CYCLOBENZAPRINE HYDROCHLORIDE [Suspect]
     Active Substance: CYCLOBENZAPRINE HYDROCHLORIDE
     Dosage: 15 MILLIGRAMS 1 EVERY 1 DAY
     Route: 065
  392. CYCLOBENZAPRINE HYDROCHLORIDE [Suspect]
     Active Substance: CYCLOBENZAPRINE HYDROCHLORIDE
     Dosage: 100 MILLIGRAMS AT AN UNSPECIFIED DOSE AND FREQUENCY
     Route: 065
  393. DILTIAZEM HYDROCHLORIDE [Suspect]
     Active Substance: DILTIAZEM HYDROCHLORIDE
     Indication: Hypertension
     Dosage: 360 MILLIGRAM 1 EVERY 1 DAYS
     Route: 065
  394. DILTIAZEM HYDROCHLORIDE [Suspect]
     Active Substance: DILTIAZEM HYDROCHLORIDE
     Indication: Coronary artery disease
     Dosage: 40 MILLIGRAM 1 EVERY 1 DAYS
     Route: 065
  395. DILTIAZEM HYDROCHLORIDE [Suspect]
     Active Substance: DILTIAZEM HYDROCHLORIDE
     Indication: Chest pain
     Dosage: 15 MILLIGRAM 1 EVERY 1 DAYS
     Route: 065
  396. DILTIAZEM HYDROCHLORIDE [Suspect]
     Active Substance: DILTIAZEM HYDROCHLORIDE
     Indication: Angina pectoris
     Dosage: AT AN UNSPECIFIED DOSE AND FREQUENCY
     Route: 065
  397. DILTIAZEM HYDROCHLORIDE [Suspect]
     Active Substance: DILTIAZEM HYDROCHLORIDE
     Indication: Angina unstable
     Dosage: 360 MILLIGRAM 1 EVERY 24 HOURS
     Route: 042
  398. DILTIAZEM HYDROCHLORIDE [Suspect]
     Active Substance: DILTIAZEM HYDROCHLORIDE
     Dosage: 500 MILLIGRAM, 1 EVERY 1 DAYS
     Route: 065
  399. DULCOLAX (BISACODYL) [Suspect]
     Active Substance: BISACODYL
     Indication: Constipation
     Dosage: 1 DOSAGE FORMS 1 EVERY 1 DAYS
     Route: 065
  400. DULCOLAX (BISACODYL) [Suspect]
     Active Substance: BISACODYL
     Dosage: 2 DOSAGE FORMS 1 EVERY 1 DAYS
     Route: 065
  401. DULCOLAX (BISACODYL) [Suspect]
     Active Substance: BISACODYL
     Dosage: 2 DOSAGE FORMS 1 EVERY 1 DAYS
     Route: 065
  402. DULCOLAX (BISACODYL) [Suspect]
     Active Substance: BISACODYL
     Dosage: AT AN UNSPECIFIED DOSE AND FREQUENCY
     Route: 048
  403. GLYCERIN [Suspect]
     Active Substance: GLYCERIN
     Indication: Product used for unknown indication
     Dosage: AT AN UNSPECIFIED DOSE AND FREQUENCY
     Route: 065
  404. NITROGLYCERIN [Suspect]
     Active Substance: NITROGLYCERIN
     Indication: Hypertension
     Dosage: 0.4 MILLIGRAM 1 EVERY 1 DAYS
     Route: 065
  405. NITROGLYCERIN [Suspect]
     Active Substance: NITROGLYCERIN
     Indication: Fibromyalgia
     Dosage: 0.6 MILLIGRAM 1 EVERY 1 DAYS
     Route: 065
  406. NITROGLYCERIN [Suspect]
     Active Substance: NITROGLYCERIN
     Indication: Coronary artery disease
     Dosage: AT AN UNSPECIFIED DOSE AND FREQUENCY
     Route: 065
  407. NITROGLYCERIN [Suspect]
     Active Substance: NITROGLYCERIN
     Indication: Chest pain
     Dosage: 40 MILLIGRAMS 1 EVERY 1 DAY
     Route: 065
  408. NITROGLYCERIN [Suspect]
     Active Substance: NITROGLYCERIN
     Indication: Angina pectoris
     Dosage: AT AN UNSPECIFIED DOSE AND FREQUENCY
     Route: 064
  409. NITROGLYCERIN [Suspect]
     Active Substance: NITROGLYCERIN
     Dosage: 0.6 MILLIGRAM 1 EVERY 1 DAYS
     Route: 061
  410. NITROGLYCERIN [Suspect]
     Active Substance: NITROGLYCERIN
     Dosage: 20 MILLIGRAMS AT AN UNSPECIFIED DOSE AND FREQUENCY
     Route: 065
  411. NITROGLYCERIN [Suspect]
     Active Substance: NITROGLYCERIN
     Dosage: 6 MILLIGRAMS 1 EVERY 1 DAY
     Route: 065
  412. NITROGLYCERIN [Suspect]
     Active Substance: NITROGLYCERIN
     Dosage: 0.6 MILLIGRAM 1 EVERY 1 HOUR
     Route: 061
  413. NITROGLYCERIN [Suspect]
     Active Substance: NITROGLYCERIN
     Dosage: AT AN UNSPECIFIED DOSE 1 EVERY 1 DAY
     Route: 065
  414. NITROGLYCERIN [Suspect]
     Active Substance: NITROGLYCERIN
     Dosage: 0.6 MILLIGRAMS AT AN UNSPECIFIED FREQUENCY
     Route: 065
  415. NITROGLYCERIN [Suspect]
     Active Substance: NITROGLYCERIN
     Dosage: 1.0 DOSAGE FORM 1 EVERY 1 DAY
     Route: 065
  416. OXCARBAZEPINE [Suspect]
     Active Substance: OXCARBAZEPINE
     Indication: Product used for unknown indication
     Dosage: AT UNSPECIFIED DOSE AND FREQUENCY (DOSAGE FORMS: NOT SPECIFIED)
     Route: 065
  417. GLUCOSAMINE SULFATE [Suspect]
     Active Substance: GLUCOSAMINE SULFATE
     Indication: Pain
     Dosage: 500 MILLIGRAM 1 EVERY 1 DAYS
     Route: 065
  418. GLUCOSAMINE SULFATE [Suspect]
     Active Substance: GLUCOSAMINE SULFATE
     Indication: Arthritis
     Dosage: 500 MILLIGRAM 2 EVERY 1 DAYS
     Route: 065
  419. GLUCOSAMINE SULFATE [Suspect]
     Active Substance: GLUCOSAMINE SULFATE
     Dosage: 500 MILLIGRAM 1 EVERY 12 HOURS
     Route: 065
  420. GLUCOSAMINE SULFATE [Suspect]
     Active Substance: GLUCOSAMINE SULFATE
     Dosage: 500 MILLIGRAM 1 EVERY 24 HOURS
     Route: 065
  421. GLUCOSAMINE SULFATE [Suspect]
     Active Substance: GLUCOSAMINE SULFATE
     Dosage: 2500 MILLIGRAM 1 EVERY 24 HOURS
     Route: 065
  422. PERSANTINE [Suspect]
     Active Substance: DIPYRIDAMOLE
     Indication: Cerebrovascular accident
     Dosage: 2 DOSAGE FORMS 1 EVERY 1 DAYS
     Route: 065
  423. PERSANTINE [Suspect]
     Active Substance: DIPYRIDAMOLE
     Dosage: 1 DOSAGE FORMS 1 EVERY 1 DAYS
     Route: 065
  424. PERSANTINE [Suspect]
     Active Substance: DIPYRIDAMOLE
     Dosage: 1 DOSAGE FORMS AT UNSPECIFIED FREQUENCY
     Route: 065
  425. PERSANTINE [Suspect]
     Active Substance: DIPYRIDAMOLE
     Dosage: 2 DOSAGE FORMS 1 EVERY 12 HOURS
     Route: 048
  426. PERSANTINE [Suspect]
     Active Substance: DIPYRIDAMOLE
     Dosage: 380 MILLIGRAM 1 EVERY 1 DAYS (DOSAGE FORM: PROLONGED RELEASE CAPSULE)
     Route: 065
  427. PERSANTINE [Suspect]
     Active Substance: DIPYRIDAMOLE
     Dosage: 5 MILLIGRAM, 1 EVERY 12 HOURS
     Route: 065
  428. PERSANTINE [Suspect]
     Active Substance: DIPYRIDAMOLE
     Dosage: 0.5 DOSAGE FORMS AT UNSPECIFIED FREQUENCY
     Route: 065
  429. PERSANTINE [Suspect]
     Active Substance: DIPYRIDAMOLE
     Dosage: 400 MILLIGRAM 1 EVERY 1 DAYS
     Route: 065
  430. PERSANTINE [Suspect]
     Active Substance: DIPYRIDAMOLE
     Dosage: 25 MILLIGRAM 1 EVERY 1 DAYS
     Route: 065
  431. PERSANTINE [Suspect]
     Active Substance: DIPYRIDAMOLE
     Dosage: 1.0 DOSAGE FORM 1 EVERY 24 HOURS
     Route: 065
  432. PERSANTINE [Suspect]
     Active Substance: DIPYRIDAMOLE
     Dosage: 1.0 DOSAGE FORM 1 EVERY 12 HOURS
     Route: 065
  433. PERSANTINE [Suspect]
     Active Substance: DIPYRIDAMOLE
     Dosage: AT AN UNSPECIFIED DOSE 1 EVERY 24 HOURS (DOSAGE FORM: NOT SPECIFIED)
     Route: 065
  434. PERSANTINE [Suspect]
     Active Substance: DIPYRIDAMOLE
     Dosage: 1 DOSAGE FORM 2 EVERY 1 DAY (DOSAGE FORM: PROLONGED RELEASE CAPSULE)
     Route: 065
  435. PERSANTINE [Suspect]
     Active Substance: DIPYRIDAMOLE
     Dosage: 1 MILLIGRAM AT NA UNSPECIFIED FREQUENCY (DOSAGE FORM: PROLONGED RELEASE CAPSULE)
     Route: 065
  436. PERSANTINE [Suspect]
     Active Substance: DIPYRIDAMOLE
     Dosage: 2 DOSAGE FORM 2 EVERY 1 DAY (DOSAGE FORM: PROLONGED RELEASE CAPSULE)
     Route: 048
  437. PERSANTINE [Suspect]
     Active Substance: DIPYRIDAMOLE
     Dosage: 25 MILLIGRAMS AT AN USNPECIFIED FREQUENCY (DOSAGE FORM: PROLONGED RELEASE CAPSULE)
     Route: 065
  438. PERSANTINE [Suspect]
     Active Substance: DIPYRIDAMOLE
     Dosage: 0.5 DOSAGE FORM AT AN UNSPECIFIED FREQUENCY (DOSAGE FORM: PROLONGED RELEASE CAPSULE)
     Route: 065
  439. PERSANTINE [Suspect]
     Active Substance: DIPYRIDAMOLE
     Dosage: 20.0 MILLIGRAM 1 EVERY 1 DAYS
     Route: 065
  440. PHENOLPHTHALEIN [Suspect]
     Active Substance: PHENOLPHTHALEIN
     Indication: Pain
     Dosage: AT UNSPECIFIED DOSE AND FREQUENCY (DOSAGE FORMS: NOT SPECIFIED)
     Route: 065
  441. PHENYLEPHRINE HYDROCHLORIDE [Suspect]
     Active Substance: PHENYLEPHRINE HYDROCHLORIDE
     Indication: Pain
     Dosage: AT AN UNSPECIFIED DOSE AND FREQUENCY
     Route: 065
  442. POLYSORBATE 85 [Suspect]
     Active Substance: POLYSORBATE 85
     Indication: Insomnia
     Dosage: AT AN UNSPECIFIED DOSE AND FREQUENCY
     Route: 065
  443. POTASSIUM SORBATE [Suspect]
     Active Substance: POTASSIUM SORBATE
     Indication: Product used for unknown indication
     Dosage: AT AN UNSPECIFIED DOSE AND FREQUENCY
     Route: 065
  444. SODIUM PICOSULFATE [Suspect]
     Active Substance: SODIUM PICOSULFATE
     Indication: Constipation
     Dosage: 2 DOSAGE FORMS 1 EVERY 1 DAYS (DOSAGE FORMS: NOT SPECIFIED)
     Route: 065
  445. SODIUM PICOSULFATE [Suspect]
     Active Substance: SODIUM PICOSULFATE
     Dosage: 2 DOSAGE FORMS 1 EVERY 24 HOURS (DOSAGE FORM: NOT SPECIFIED
     Route: 065
  446. CRANBERRY [Suspect]
     Active Substance: CRANBERRY
     Indication: Bladder disorder
     Dosage: 500 MILLIGRAM 1 EVERY 8 HOURS
     Route: 065
  447. CRANBERRY [Suspect]
     Active Substance: CRANBERRY
     Dosage: 500 MILLIGRAM 1 EVERY 24 HOURS
     Route: 065
  448. CRANBERRY [Suspect]
     Active Substance: CRANBERRY
     Dosage: 500 MILLIGRAMS AT AN UNSPECIFIED FREQUENCY (DOSAGE FORM: TABLET)
     Route: 065
  449. CRANBERRY [Suspect]
     Active Substance: CRANBERRY
     Dosage: AT AN UNSPECIFIED DOSE 1 EVERY 1 DAY (DOSAGE FORM: TABLET)
     Route: 065
  450. CRANBERRY [Suspect]
     Active Substance: CRANBERRY
     Dosage: 500 MILLIGRAMS 3 EVERY 1 DAY (DOSAGE FORM: TABLET)
     Route: 065
  451. CRANBERRY [Suspect]
     Active Substance: CRANBERRY
     Dosage: 500 MILLIGRAMS 1 EVERY 1 DAY (DOSAGE FORM: TABLET)
     Route: 065
  452. CRANBERRY [Suspect]
     Active Substance: CRANBERRY
     Dosage: 1500 MILLIGRAMS 1 EVERY 1 DAY (DOSAGE FORM: TABLET)
     Route: 065
  453. CRANBERRY [Suspect]
     Active Substance: CRANBERRY
     Dosage: 1500 MILLIGRAMS AT AN UNSPECIFIED DOSE AND FREQUENCY (DOSAGE FORM: TABLET)
     Route: 065
  454. CRANBERRY [Suspect]
     Active Substance: CRANBERRY
     Dosage: 4500 MILLIGRAMS AT AN UNSPECIFIED FREQUENCY (DOSAGE FORM: TABLET)
     Route: 065
  455. CRANBERRY [Suspect]
     Active Substance: CRANBERRY
     Dosage: 4500 MILLIGRAMS 1 EVERY 1 DAYS
     Route: 065
  456. SPIRIVA [Suspect]
     Active Substance: TIOTROPIUM BROMIDE MONOHYDRATE
     Indication: Chronic obstructive pulmonary disease
     Dosage: 18 MILLIGRAM 1 EVERY 1 DAYS (DOSAGE FORM: NOT SPECIFIED)
     Route: 065
  457. SPIRIVA [Suspect]
     Active Substance: TIOTROPIUM BROMIDE MONOHYDRATE
     Indication: Asthma
     Dosage: 18 MICROGRAM 1 EVERY 1 DAYS
     Route: 065
  458. ACEBUTOLOL HYDROCHLORIDE [Suspect]
     Active Substance: ACEBUTOLOL HYDROCHLORIDE
     Indication: Hypertension
     Dosage: 200 MILLIGRAM 1 EVERY 1 DAYS
     Route: 065
  459. ACEBUTOLOL HYDROCHLORIDE [Suspect]
     Active Substance: ACEBUTOLOL HYDROCHLORIDE
     Indication: Coronary artery disease
     Dosage: 400 MILLIGRAM 1 EVERY 1 DAYS
     Route: 065
  460. ACEBUTOLOL HYDROCHLORIDE [Suspect]
     Active Substance: ACEBUTOLOL HYDROCHLORIDE
     Indication: Angina pectoris
     Dosage: 400 MILLIGRAM 1 EVERY 1 WEEKS
     Route: 065
  461. ACEBUTOLOL HYDROCHLORIDE [Suspect]
     Active Substance: ACEBUTOLOL HYDROCHLORIDE
     Indication: Constipation
     Dosage: 200 MILLIGRAM 1 EVERY 12 HOURS
     Route: 065
  462. ACEBUTOLOL HYDROCHLORIDE [Suspect]
     Active Substance: ACEBUTOLOL HYDROCHLORIDE
     Indication: Chest pain
     Dosage: 100 MILLIGRAM 1 EVERY 1 DAYS
     Route: 065
  463. ACEBUTOLOL HYDROCHLORIDE [Suspect]
     Active Substance: ACEBUTOLOL HYDROCHLORIDE
     Dosage: 100 MILLIGRAMS 1 EVERY 12 HOURS
     Route: 065
  464. ACEBUTOLOL HYDROCHLORIDE [Suspect]
     Active Substance: ACEBUTOLOL HYDROCHLORIDE
     Dosage: 100 MILLIGRAMS 1 EVERY 4.8 HOURS
     Route: 065
  465. ACEBUTOLOL HYDROCHLORIDE [Suspect]
     Active Substance: ACEBUTOLOL HYDROCHLORIDE
     Dosage: 500 MILLIGRAM 1 EVERY 24 HOURS
     Route: 065
  466. ACEBUTOLOL HYDROCHLORIDE [Suspect]
     Active Substance: ACEBUTOLOL HYDROCHLORIDE
     Dosage: AT AN UNSPECIFIED DOSE AND FREQUENCY
     Route: 065
  467. ACEBUTOLOL HYDROCHLORIDE [Suspect]
     Active Substance: ACEBUTOLOL HYDROCHLORIDE
     Dosage: 200 MILLIGRAM, AT AN UNSPECIFIED FREQUENCY
     Route: 065
  468. ACEBUTOLOL HYDROCHLORIDE [Suspect]
     Active Substance: ACEBUTOLOL HYDROCHLORIDE
     Dosage: 400 MILLIGRAM
     Route: 065
  469. OXAZEPAM [Suspect]
     Active Substance: OXAZEPAM
     Indication: Insomnia
     Dosage: 360 MILLIGRAM 1 EVERY 1 DAYS
     Route: 065
  470. CYCLOBENZAPRINE [Suspect]
     Active Substance: CYCLOBENZAPRINE
     Indication: Fibromyalgia
     Dosage: 200 MILLIGRAM 1 EVERY 12 HOURS
     Route: 065
  471. CYCLOBENZAPRINE [Suspect]
     Active Substance: CYCLOBENZAPRINE
     Indication: Pain
     Dosage: 100 MILLIGRAM 1 EVERY 12 HOURS
     Route: 065
  472. CYCLOBENZAPRINE [Suspect]
     Active Substance: CYCLOBENZAPRINE
     Indication: Seizure prophylaxis
     Dosage: 10 MILLIGRAM 1 EVERY 1 DAYS
     Route: 065
  473. CYCLOBENZAPRINE [Suspect]
     Active Substance: CYCLOBENZAPRINE
     Indication: Seizure
     Dosage: 1.87 MILLIGRAM 1 EVERY 1 DAYS
     Route: 065
  474. CYCLOBENZAPRINE [Suspect]
     Active Substance: CYCLOBENZAPRINE
     Dosage: 2.0 MILLIGRAM 1 EVERY 1 DAYS
     Route: 065
  475. CYCLOBENZAPRINE [Suspect]
     Active Substance: CYCLOBENZAPRINE
     Dosage: 15 MILLIGRAM 1 EVERY 8 HOURS
     Route: 065
  476. CYCLOBENZAPRINE [Suspect]
     Active Substance: CYCLOBENZAPRINE
     Dosage: 1.87 MILLIGRAM 1 EVERY 8 HOURS
     Route: 065
  477. CYCLOBENZAPRINE [Suspect]
     Active Substance: CYCLOBENZAPRINE
     Dosage: 15 MILLIGRAM 1 EVERY 24 HOURS
     Route: 065
  478. CYCLOBENZAPRINE [Suspect]
     Active Substance: CYCLOBENZAPRINE
     Dosage: 1.8 MILLIGRAM 1 EVERY 1 DAYS
     Route: 065
  479. CYCLOBENZAPRINE [Suspect]
     Active Substance: CYCLOBENZAPRINE
     Dosage: 500 MILLIGRAM 1 EVERY 8 HOURS
     Route: 065
  480. CYCLOBENZAPRINE [Suspect]
     Active Substance: CYCLOBENZAPRINE
     Dosage: AT AN UNSPECIFIED DOSE AD FREQUENCY (DOSAGE FORM: TABLET)
     Route: 048
  481. GALANTAMINE HYDROBROMIDE [Suspect]
     Active Substance: GALANTAMINE HYDROBROMIDE
     Indication: Dementia
     Dosage: 16 MILLIGRAM 1 EVERY 1 DAYS
     Route: 065
  482. GALANTAMINE HYDROBROMIDE [Suspect]
     Active Substance: GALANTAMINE HYDROBROMIDE
     Dosage: 16 MILLIGRAM 1 EVERY 24 HOURS
     Route: 065
  483. GALANTAMINE HYDROBROMIDE [Suspect]
     Active Substance: GALANTAMINE HYDROBROMIDE
     Dosage: AT AN UNSPECIFIED DOSE AND FREQUENCY (DOSAGE FORM: PROLONGED-RELEASE CAPSULE)
     Route: 065
  484. GALANTAMINE HYDROBROMIDE [Suspect]
     Active Substance: GALANTAMINE HYDROBROMIDE
     Dosage: 16 MILLIGRAMS AT AN UNSPECIFIED FREQUENCY
     Route: 065
  485. GLUCOSAMINE SULFATE [Suspect]
     Active Substance: GLUCOSAMINE SULFATE
     Indication: Pain
     Dosage: AT UNSPECIFIED DOSE AND FREQUENCY
     Route: 065
  486. GLUCOSAMINE SULFATE [Suspect]
     Active Substance: GLUCOSAMINE SULFATE
     Indication: Arthritis
     Dosage: 1000.0 MILLIGRAM, 1 EVERY 1 DAYS
     Route: 065
  487. NITROGLYCERIN [Suspect]
     Active Substance: NITROGLYCERIN
     Indication: Coronary artery disease
     Dosage: AT UNSPECIFIED DOSE AND FREQUENCY (DOSAGE FORM: NOT SPECIFIED)
     Route: 065
  488. NITROGLYCERIN [Suspect]
     Active Substance: NITROGLYCERIN
     Indication: Angina pectoris
  489. NITROGLYCERIN [Suspect]
     Active Substance: NITROGLYCERIN
     Indication: Hypertension
  490. NITROGLYCERIN [Suspect]
     Active Substance: NITROGLYCERIN
     Indication: Chest pain
  491. QUINAPRIL HYDROCHLORIDE [Suspect]
     Active Substance: QUINAPRIL HYDROCHLORIDE
     Indication: Hypertension
     Dosage: 20 MILLIGRAM 1 EVERY 1 DAYS
     Route: 065
  492. QUINAPRIL HYDROCHLORIDE [Suspect]
     Active Substance: QUINAPRIL HYDROCHLORIDE
     Indication: Coronary artery disease
     Dosage: 40 MILLIGRAM 1 EVERY 1 DAYS
     Route: 065
  493. QUINAPRIL HYDROCHLORIDE [Suspect]
     Active Substance: QUINAPRIL HYDROCHLORIDE
     Indication: Seizure prophylaxis
  494. QUINAPRIL HYDROCHLORIDE [Suspect]
     Active Substance: QUINAPRIL HYDROCHLORIDE
     Indication: Seizure
  495. QUINAPRIL HYDROCHLORIDE [Suspect]
     Active Substance: QUINAPRIL HYDROCHLORIDE
     Indication: Pain
  496. QUINAPRIL HYDROCHLORIDE [Suspect]
     Active Substance: QUINAPRIL HYDROCHLORIDE
     Indication: Insomnia
  497. QUINAPRIL HYDROCHLORIDE [Suspect]
     Active Substance: QUINAPRIL HYDROCHLORIDE
     Indication: Chest pain
  498. QUINAPRIL HYDROCHLORIDE [Suspect]
     Active Substance: QUINAPRIL HYDROCHLORIDE
     Indication: Angina pectoris
  499. QUINAPRIL HYDROCHLORIDE [Suspect]
     Active Substance: QUINAPRIL HYDROCHLORIDE
     Indication: Cerebrovascular accident
  500. QUINAPRIL HYDROCHLORIDE [Suspect]
     Active Substance: QUINAPRIL HYDROCHLORIDE
     Indication: Fibromyalgia
  501. QUINAPRIL HYDROCHLORIDE [Suspect]
     Active Substance: QUINAPRIL HYDROCHLORIDE
     Indication: Coronary artery dilatation
  502. ASPIRIN\DIPYRIDAMOLE [Suspect]
     Active Substance: ASPIRIN\DIPYRIDAMOLE
     Indication: Cerebrovascular accident
     Dosage: 1.0 DOSAGE FORM, 1 EVERY 12 HOURS
     Route: 065
  503. ASPIRIN\DIPYRIDAMOLE [Suspect]
     Active Substance: ASPIRIN\DIPYRIDAMOLE
     Dosage: 40 MILLIGRAM, 1 EVERY 24 HOURS
     Route: 065
  504. ASPIRIN\DIPYRIDAMOLE [Suspect]
     Active Substance: ASPIRIN\DIPYRIDAMOLE
     Dosage: 20 MILLIGRAM, 1 EVERY 24 HOURS
     Route: 065
  505. ROSUVASTATIN CALCIUM [Suspect]
     Active Substance: ROSUVASTATIN CALCIUM
     Indication: Cerebrovascular accident
     Dosage: 40 MILLIGRAM AT UNSPECIFIED FREQUENCY
     Route: 065
  506. ROSUVASTATIN CALCIUM [Suspect]
     Active Substance: ROSUVASTATIN CALCIUM
     Indication: Insomnia
  507. ROSUVASTATIN CALCIUM [Suspect]
     Active Substance: ROSUVASTATIN CALCIUM
     Indication: Hypertension
  508. ROSUVASTATIN CALCIUM [Suspect]
     Active Substance: ROSUVASTATIN CALCIUM
     Indication: Coronary artery disease
  509. ROSUVASTATIN CALCIUM [Suspect]
     Active Substance: ROSUVASTATIN CALCIUM
     Indication: Chronic obstructive pulmonary disease
  510. ROSUVASTATIN CALCIUM [Suspect]
     Active Substance: ROSUVASTATIN CALCIUM
     Indication: Chest pain
  511. ROSUVASTATIN CALCIUM [Suspect]
     Active Substance: ROSUVASTATIN CALCIUM
     Indication: Angina pectoris
  512. OXAZEPAM [Suspect]
     Active Substance: OXAZEPAM
     Indication: Insomnia
     Dosage: 20 MILLIGRAM (MG) 1 EVERY 1 DAYS (DOSAGE FORM: TABLET)
     Route: 048
  513. OXAZEPAM [Suspect]
     Active Substance: OXAZEPAM
     Indication: Hypertension
     Dosage: 40 MILLIGRAM (MG) 1 EVERY 1 DAYS (DOSAGE FORM: TABLET)
     Route: 065
  514. OXAZEPAM [Suspect]
     Active Substance: OXAZEPAM
     Indication: Coronary artery disease
     Dosage: 15 MILLIGRAM 1EVERY 1 DAY (DOSAGE FORM: TABLET)
     Route: 065
  515. OXAZEPAM [Suspect]
     Active Substance: OXAZEPAM
     Indication: Angina pectoris
     Dosage: 15 MILLIGRAMS AT AN UNSPECIFIED FREQUENCY (DOSAGE FORM: TABLET)
     Route: 065
  516. OXAZEPAM [Suspect]
     Active Substance: OXAZEPAM
     Indication: Duodenal ulcer
     Dosage: AT AN UNSPECIFIED DOSE AND FREQUENCY (DOSAGE FORM: TABLET)
     Route: 048
  517. OXAZEPAM [Suspect]
     Active Substance: OXAZEPAM
     Indication: Cerebrovascular accident
  518. SPIRIVA [Suspect]
     Active Substance: TIOTROPIUM BROMIDE MONOHYDRATE
     Indication: Chronic obstructive pulmonary disease
     Dosage: 18 MICROGRAM 1 EVERY 1 DAYS
     Route: 065
  519. SPIRIVA [Suspect]
     Active Substance: TIOTROPIUM BROMIDE MONOHYDRATE
     Dosage: 1.0 DOSAGE FORMS 1 EVERY 1 DAYS
     Route: 065
  520. CRANBERRY [Suspect]
     Active Substance: CRANBERRY
     Indication: Bladder disorder
     Dosage: 500 MILLIGRAM 1 EVERY 8 HOURS
     Route: 065
  521. CRANBERRY [Suspect]
     Active Substance: CRANBERRY
     Indication: Chronic obstructive pulmonary disease
     Dosage: 500 MILLIGRAM AT AN UNSPECIFIED FREQUENCY
     Route: 065
  522. CRANBERRY [Suspect]
     Active Substance: CRANBERRY
     Dosage: AT AN UNSPECIFIED DOSE AND FREQUENCY (DOSAGE FORM: TABLET)
     Route: 065
  523. CRANBERRY [Suspect]
     Active Substance: CRANBERRY
     Indication: Bladder disorder
     Dosage: 500 MILLIGRAM 1 EVERY 8 HOURS
     Route: 065
  524. SPIRIVA [Suspect]
     Active Substance: TIOTROPIUM BROMIDE MONOHYDRATE
     Indication: Chronic obstructive pulmonary disease
     Dosage: 18 MICROGRAM 1 EVERY 1 DAYS
     Route: 065
  525. CHONDROITIN SULFATE (BOVINE)\GLUCOSAMINE SULFATE [Suspect]
     Active Substance: CHONDROITIN SULFATE (BOVINE)\GLUCOSAMINE SULFATE
     Indication: Product used for unknown indication
     Dosage: AT AN UNSPECIFIED DOSE AND FREQUENCY
     Route: 065
  526. ACETAMINOPHEN [Suspect]
     Active Substance: ACETAMINOPHEN
     Indication: Radioactive iodine therapy
     Dosage: 50 MILLIGRAM 1 EVERY 1 DAYS (DOSAGE FORM: ELIXIR)
     Route: 065
  527. ACETAMINOPHEN [Suspect]
     Active Substance: ACETAMINOPHEN
     Indication: Pain
     Dosage: 650 MILLIGRAM AT UNSPECIFIED FREQUENCY (DOSAGE FORM: ELIXIR)
     Route: 065
  528. ACETAMINOPHEN [Suspect]
     Active Substance: ACETAMINOPHEN
     Indication: Fibromyalgia
     Dosage: 50 MILLIGRAM 1 EVERY 6 HOURS (DOSAGE FORM: ELIXIR)
     Route: 065
  529. ACETAMINOPHEN [Suspect]
     Active Substance: ACETAMINOPHEN
     Indication: Angina pectoris
     Dosage: 650 MILLIGRAM 1 EVERY 1 DAYS (DOSAGE FORM: ELIXIR)
     Route: 065
  530. ACETAMINOPHEN AND CAFFEINE [Suspect]
     Active Substance: ACETAMINOPHEN\CAFFEINE
     Indication: Radioactive iodine therapy
     Dosage: 650 MILLIGRAM 1 EVERY 1 DAYS
     Route: 065
  531. ACETAMINOPHEN AND CAFFEINE [Suspect]
     Active Substance: ACETAMINOPHEN\CAFFEINE
     Indication: Pain
     Dosage: 650 MILLIGRAM AT UNSPECIFIED FREQUENCY
     Route: 065
  532. ACETAMINOPHEN AND CAFFEINE [Suspect]
     Active Substance: ACETAMINOPHEN\CAFFEINE
     Indication: Hypertension
     Dosage: 50 MILLIGRAM 1 EVERY 1 DAYS
     Route: 065
  533. ACETAMINOPHEN AND CAFFEINE [Suspect]
     Active Substance: ACETAMINOPHEN\CAFFEINE
     Indication: Fibromyalgia
     Dosage: 60 MILLIGRAM 1 EVERY 1 DAYS
     Route: 065
  534. ACETAMINOPHEN AND CAFFEINE [Suspect]
     Active Substance: ACETAMINOPHEN\CAFFEINE
     Indication: Coronary artery disease
     Dosage: AT AN UNSPECIFIED DOSE AND FREQUENCY
     Route: 065
  535. ACETAMINOPHEN AND CAFFEINE [Suspect]
     Active Substance: ACETAMINOPHEN\CAFFEINE
     Indication: Chronic obstructive pulmonary disease
  536. ACETAMINOPHEN AND CAFFEINE [Suspect]
     Active Substance: ACETAMINOPHEN\CAFFEINE
     Indication: Chest pain
  537. ACETAMINOPHEN AND CAFFEINE [Suspect]
     Active Substance: ACETAMINOPHEN\CAFFEINE
     Indication: Cerebrovascular accident
  538. ACETAMINOPHEN AND CAFFEINE [Suspect]
     Active Substance: ACETAMINOPHEN\CAFFEINE
     Indication: Angina pectoris
  539. ACETAMINOPHEN, ASPIRIN AND CAFFEINE [Suspect]
     Active Substance: ACETAMINOPHEN\ASPIRIN\CAFFEINE
     Indication: Product used for unknown indication
     Route: 065
  540. AMBROXOL HYDROCHLORIDE\CLENBUTEROL [Suspect]
     Active Substance: AMBROXOL HYDROCHLORIDE\CLENBUTEROL
     Indication: Product used for unknown indication
     Dosage: AT AN UNSPECIFIED DOSE AND FREQUENCY
     Route: 065
  541. AMITRIPTYLINE HYDROCHLORIDE [Suspect]
     Active Substance: AMITRIPTYLINE HYDROCHLORIDE
     Indication: Duodenal ulcer
     Dosage: 75 MILLIGRAM 1 EVERY 1 DAYS
     Route: 065
  542. AMITRIPTYLINE HYDROCHLORIDE [Suspect]
     Active Substance: AMITRIPTYLINE HYDROCHLORIDE
     Indication: Insomnia
     Dosage: 5 MILLIGRAM 1 EVERY 1 DAYS
     Route: 065
  543. AMITRIPTYLINE HYDROCHLORIDE [Suspect]
     Active Substance: AMITRIPTYLINE HYDROCHLORIDE
     Indication: Radioactive iodine therapy
     Dosage: UNK
     Route: 048
  544. AMITRIPTYLINE HYDROCHLORIDE [Suspect]
     Active Substance: AMITRIPTYLINE HYDROCHLORIDE
     Indication: Prophylaxis
     Dosage: 50 MILLIGRAM 1 EVERY 1 DAYS
     Route: 065
  545. AMITRIPTYLINE HYDROCHLORIDE [Suspect]
     Active Substance: AMITRIPTYLINE HYDROCHLORIDE
     Indication: Pain
  546. AMITRIPTYLINE HYDROCHLORIDE [Suspect]
     Active Substance: AMITRIPTYLINE HYDROCHLORIDE
     Indication: Oedema
  547. AMITRIPTYLINE HYDROCHLORIDE [Suspect]
     Active Substance: AMITRIPTYLINE HYDROCHLORIDE
     Indication: Hypertension
  548. AMITRIPTYLINE HYDROCHLORIDE [Suspect]
     Active Substance: AMITRIPTYLINE HYDROCHLORIDE
     Indication: Fibromyalgia
  549. AMITRIPTYLINE HYDROCHLORIDE [Suspect]
     Active Substance: AMITRIPTYLINE HYDROCHLORIDE
     Indication: Dementia
  550. AMITRIPTYLINE HYDROCHLORIDE [Suspect]
     Active Substance: AMITRIPTYLINE HYDROCHLORIDE
     Indication: Coronary artery disease
  551. AMITRIPTYLINE HYDROCHLORIDE [Suspect]
     Active Substance: AMITRIPTYLINE HYDROCHLORIDE
     Indication: Constipation
  552. AMITRIPTYLINE HYDROCHLORIDE [Suspect]
     Active Substance: AMITRIPTYLINE HYDROCHLORIDE
     Indication: Chest pain
  553. AMITRIPTYLINE HYDROCHLORIDE [Suspect]
     Active Substance: AMITRIPTYLINE HYDROCHLORIDE
     Indication: Arthritis
  554. AMITRIPTYLINE HYDROCHLORIDE [Suspect]
     Active Substance: AMITRIPTYLINE HYDROCHLORIDE
     Indication: Angina pectoris
  555. AMINOPHYLLINE [Suspect]
     Active Substance: AMINOPHYLLINE
     Indication: Coronary artery disease
     Dosage: 6 MILLIGRAMS 1 EVERY 24 HOURS
     Route: 061
  556. AMINOPHYLLINE [Suspect]
     Active Substance: AMINOPHYLLINE
     Indication: Chest pain
     Dosage: AT AN UNSPECIFIED DOSE AND FREQUENCY (DOSAGE FORM: NOT SPECIFIED)
     Route: 065
  557. AMINOPHYLLINE [Suspect]
     Active Substance: AMINOPHYLLINE
     Indication: Angina pectoris
  558. AMLODIPINE [Suspect]
     Active Substance: AMLODIPINE BESYLATE
     Indication: Hypertension
     Dosage: 5 MILLIGRAM, 1 EVERY 1 DAYS
     Route: 065
  559. AMLODIPINE [Suspect]
     Active Substance: AMLODIPINE BESYLATE
     Indication: Coronary artery disease
     Dosage: 50 MILLIGRAM, 1 EVERY 1 DAYS
     Route: 065
  560. AMLODIPINE [Suspect]
     Active Substance: AMLODIPINE BESYLATE
     Indication: Constipation
     Dosage: 5 MILLIGRAM AT UNSPECIFIED FREQUENCY
     Route: 065
  561. AMLODIPINE [Suspect]
     Active Substance: AMLODIPINE BESYLATE
     Indication: Chest pain
     Dosage: AT AN UNSPECIFIED DOSE AND FREQUENCY
     Route: 065
  562. AMLODIPINE [Suspect]
     Active Substance: AMLODIPINE BESYLATE
     Indication: Angina pectoris
  563. CAFFEINE [Suspect]
     Active Substance: CAFFEINE
     Indication: Product used for unknown indication
     Dosage: AT AN UNSPECIFIED DOSE AND FREQUENCY (DOSAGE FORM: NOT SPECIFIED)
     Route: 065
  564. DILTIAZEM HYDROCHLORIDE [Suspect]
     Active Substance: DILTIAZEM HYDROCHLORIDE
     Indication: Hypertension
     Dosage: 75 MILLIGRAM 1 EVERY 1 DAYS
     Route: 065
  565. DILTIAZEM HYDROCHLORIDE [Suspect]
     Active Substance: DILTIAZEM HYDROCHLORIDE
     Indication: Coronary artery disease
     Dosage: 360 MILLIGRAM 1 EVERY 1 DAYS
     Route: 065
  566. DILTIAZEM HYDROCHLORIDE [Suspect]
     Active Substance: DILTIAZEM HYDROCHLORIDE
     Indication: Chest pain
     Dosage: 36 MILLIGRAM 1 EVERY 1 DAYS
     Route: 065
  567. DILTIAZEM HYDROCHLORIDE [Suspect]
     Active Substance: DILTIAZEM HYDROCHLORIDE
     Indication: Angina pectoris
     Dosage: 300 MILLIGRAM 1 EVERY 1 DAYS
     Route: 065
  568. DILTIAZEM HYDROCHLORIDE [Suspect]
     Active Substance: DILTIAZEM HYDROCHLORIDE
     Indication: Angina unstable
     Dosage: 16 MILLIGRAM 1 EVERY 1 DAYS
     Route: 065
  569. DILTIAZEM HYDROCHLORIDE [Suspect]
     Active Substance: DILTIAZEM HYDROCHLORIDE
     Dosage: 0.4 MILLIGRAM AT UNSPECIFIED FREQUENCY
     Route: 065
  570. DILTIAZEM HYDROCHLORIDE [Suspect]
     Active Substance: DILTIAZEM HYDROCHLORIDE
     Dosage: 115 MILLIGRAM 1 EVERY 1 DAYS
     Route: 065
  571. DILTIAZEM HYDROCHLORIDE [Suspect]
     Active Substance: DILTIAZEM HYDROCHLORIDE
     Dosage: 500 MILLIGRAM 1 EVERY 1 DAYS
     Route: 065
  572. DOCUSATE SODIUM [Suspect]
     Active Substance: DOCUSATE SODIUM
     Indication: Constipation
     Dosage: AT AN UNSPECIFIED DOSE AND FREQUENCY (DOSAGE FORM: NOT SPECIFIED)
     Route: 065
  573. ERGOCALCIFEROL [Suspect]
     Active Substance: ERGOCALCIFEROL
     Indication: Product used for unknown indication
     Route: 065
  574. FRUCTOSE\GLYCERIN\SODIUM CHLORIDE [Suspect]
     Active Substance: FRUCTOSE\GLYCERIN\SODIUM CHLORIDE
     Indication: Product used for unknown indication
     Route: 065
  575. FUROSEMIDE [Suspect]
     Active Substance: FUROSEMIDE
     Indication: Oedema
     Dosage: 40 MILLIGRAM AT UNSPECIFIED FREQUENCY
     Route: 065
  576. FUROSEMIDE [Suspect]
     Active Substance: FUROSEMIDE
     Indication: Coronary artery disease
     Dosage: 4 MILLIGRAM 1 EVERY 1 DAYS
     Route: 065
  577. FUROSEMIDE [Suspect]
     Active Substance: FUROSEMIDE
     Indication: Chest pain
     Dosage: 20 MILLIGRAM 1 EVERY 1 DAYS
     Route: 065
  578. FUROSEMIDE [Suspect]
     Active Substance: FUROSEMIDE
     Indication: Angina pectoris
     Dosage: 40 MILLIGRAM 1 EVERY 1 DAYS
     Route: 061
  579. FUROSEMIDE [Suspect]
     Active Substance: FUROSEMIDE
     Dosage: 10 MILLIGRAM 1 EVERY 1 DAYS
     Route: 065
  580. OMEPRAZOLE [Suspect]
     Active Substance: OMEPRAZOLE
     Indication: Small intestine carcinoma
     Dosage: 20 MILLIGRAM 1 EVERY 1 DAYS (DOSAGE FORM: NOT SPECIFIED)
     Route: 065
  581. OMEPRAZOLE [Suspect]
     Active Substance: OMEPRAZOLE
     Indication: Hypertension
     Dosage: 20 MILLIGRAM AT AN UNSPECIFIED FREQUENCY
     Route: 065
  582. OMEPRAZOLE [Suspect]
     Active Substance: OMEPRAZOLE
     Indication: Duodenal ulcer
     Dosage: 20 MILLIGRAM 1 EVERY 1 DAY
     Route: 048
  583. OMEPRAZOLE [Suspect]
     Active Substance: OMEPRAZOLE
     Indication: Coronary artery disease
     Dosage: AT AN UNSPECIFIED DOSE AND FREQUENCY
     Route: 065
  584. OMEPRAZOLE [Suspect]
     Active Substance: OMEPRAZOLE
     Indication: Chest pain
  585. OMEPRAZOLE [Suspect]
     Active Substance: OMEPRAZOLE
     Indication: Angina pectoris
  586. PERPHENAZINE [Suspect]
     Active Substance: PERPHENAZINE
     Indication: Insomnia
     Dosage: 75 MILLIGRAM 1 EVERY 1 DAYS
     Route: 065
  587. POLYSORBATE 20 [Suspect]
     Active Substance: POLYSORBATE 20
     Indication: Insomnia
     Dosage: AT AN UNSPECIFIED DOSE AND FREQUENCY
     Route: 065
  588. POLYSORBATE 40 [Suspect]
     Active Substance: POLYSORBATE 40
     Indication: Insomnia
     Route: 065
  589. POLYSORBATE 80 [Suspect]
     Active Substance: POLYSORBATE 80
     Indication: Insomnia
     Dosage: AT AN UNSPECIFIED DOSE AND FREQUENCY
     Route: 065
  590. DROTAVERINE [Suspect]
     Active Substance: DROTAVERINE
     Indication: Product used for unknown indication
     Dosage: AT AN UNSPECIFIED DOSE AND FREQUENCY
     Route: 065
  591. SALICYLAMIDE [Suspect]
     Active Substance: SALICYLAMIDE
     Indication: Pain
     Dosage: AT UNSPECIFIED DOSE AND FREQUENCY (DOSAGE FORM: NOT SPECIFIED)
     Route: 065
  592. AMITRIPTYLINE HYDROCHLORIDE\PERPHENAZINE [Suspect]
     Active Substance: AMITRIPTYLINE HYDROCHLORIDE\PERPHENAZINE
     Indication: Insomnia
     Dosage: 75 MILLIGRAM 1 EVERY 1 DAYS
     Route: 065
  593. AMITRIPTYLINE HYDROCHLORIDE\PERPHENAZINE [Suspect]
     Active Substance: AMITRIPTYLINE HYDROCHLORIDE\PERPHENAZINE
     Indication: Hypertension
     Dosage: 50 MILLIGRAM 1 EVERY 1 DAYS
     Route: 065
  594. AMITRIPTYLINE HYDROCHLORIDE\PERPHENAZINE [Suspect]
     Active Substance: AMITRIPTYLINE HYDROCHLORIDE\PERPHENAZINE
     Indication: Fibromyalgia
     Dosage: 50 MILLIGRAM 1 EVERY 24 HOURS
     Route: 065
  595. AMITRIPTYLINE HYDROCHLORIDE\PERPHENAZINE [Suspect]
     Active Substance: AMITRIPTYLINE HYDROCHLORIDE\PERPHENAZINE
     Indication: Duodenal ulcer
     Dosage: 75 MILLIGRAM 1 EVERY 24 HOURS
     Route: 065
  596. AMITRIPTYLINE HYDROCHLORIDE\PERPHENAZINE [Suspect]
     Active Substance: AMITRIPTYLINE HYDROCHLORIDE\PERPHENAZINE
     Indication: Dementia
     Dosage: AT AN UNSPECIFIED DOSE AND FREQUENCY (DOSAGE FOMR: TABLET)
     Route: 065
  597. AMITRIPTYLINE HYDROCHLORIDE\PERPHENAZINE [Suspect]
     Active Substance: AMITRIPTYLINE HYDROCHLORIDE\PERPHENAZINE
     Indication: Coronary artery disease
  598. AMITRIPTYLINE HYDROCHLORIDE\PERPHENAZINE [Suspect]
     Active Substance: AMITRIPTYLINE HYDROCHLORIDE\PERPHENAZINE
     Indication: Constipation
  599. AMITRIPTYLINE HYDROCHLORIDE\PERPHENAZINE [Suspect]
     Active Substance: AMITRIPTYLINE HYDROCHLORIDE\PERPHENAZINE
     Indication: Chest pain
  600. AMITRIPTYLINE HYDROCHLORIDE\PERPHENAZINE [Suspect]
     Active Substance: AMITRIPTYLINE HYDROCHLORIDE\PERPHENAZINE
     Indication: Arthritis
  601. AMITRIPTYLINE HYDROCHLORIDE\PERPHENAZINE [Suspect]
     Active Substance: AMITRIPTYLINE HYDROCHLORIDE\PERPHENAZINE
     Indication: Angina pectoris
  602. SENNOSIDES [Suspect]
     Active Substance: SENNOSIDES
     Indication: Pain
     Dosage: AT UNSPECIFIED DOSE AND FREQUENCY
     Route: 065
  603. CRANBERRY [Suspect]
     Active Substance: CRANBERRY
     Indication: Bladder disorder
     Dosage: 500 MILLIGRAM AT UNSPECIFIED FREQUENCY
     Route: 065
  604. CRANBERRY [Suspect]
     Active Substance: CRANBERRY
     Indication: Fibromyalgia
     Dosage: 500 MILLIGRAMS 1 EVERY 24 HOURS
     Route: 065
  605. CRANBERRY [Suspect]
     Active Substance: CRANBERRY
     Dosage: 1500.0 MILLIGRAM, 1 EVERY 1 DAYS
     Route: 065
  606. CRANBERRY [Suspect]
     Active Substance: CRANBERRY
     Dosage: 500 MILLIGRAM, 1 EVERY 8 HOURS
     Route: 065
  607. HERBALS\PLANTAGO OVATA LEAF [Suspect]
     Active Substance: HERBALS\PLANTAGO OVATA LEAF
     Indication: Constipation
     Dosage: 500 MILLIGRAM 1 EVERY 8 HOURS
     Route: 065
  608. ASCORBIC ACID\CRANBERRY [Suspect]
     Active Substance: ASCORBIC ACID\CRANBERRY
     Indication: Product used for unknown indication
     Dosage: 500 MILLIGRAM 1 EVERY 1 DAYS
     Route: 065
  609. ALBUTEROL SULFATE\AMBROXOL HYDROCHLORIDE\GUAIFENESIN [Suspect]
     Active Substance: ALBUTEROL SULFATE\AMBROXOL HYDROCHLORIDE\GUAIFENESIN
     Indication: Product used for unknown indication
     Dosage: AT AN USNPECIFIED DOSE AND FREQUENCY
     Route: 065
  610. PAPAVERINE [Suspect]
     Active Substance: PAPAVERINE
     Indication: Coronary artery disease
     Dosage: AT AN UNSPECIFIED DOSE AND FREQUENCY
     Route: 065
  611. PAPAVERINE [Suspect]
     Active Substance: PAPAVERINE
     Indication: Chest pain
     Dosage: AT AN UNSPECIFIED DOSE 1 EVERY 12 HOURS
     Route: 061
  612. PAPAVERINE [Suspect]
     Active Substance: PAPAVERINE
     Indication: Angina pectoris
  613. PHENOBARBITAL [Suspect]
     Active Substance: PHENOBARBITAL
     Indication: Coronary artery disease
     Dosage: AT AN UNSPECIFIED DOSE AND FREQUENCY (DOSAGE FORM: NOT SPECIFIED)
     Route: 065
  614. PHENOBARBITAL [Suspect]
     Active Substance: PHENOBARBITAL
     Indication: Chest pain
     Dosage: 6.0 MILLIGRAMS 1 EVERY 24 HOURS
     Route: 061
  615. PHENOBARBITAL [Suspect]
     Active Substance: PHENOBARBITAL
     Indication: Angina pectoris
  616. QUININE [Suspect]
     Active Substance: QUININE
     Indication: Pain
     Dosage: AT AN UNSPECIFIED DOSE AND FREQUENCY
     Route: 065
  617. TIOTROPIUM BROMIDE MONOHYDRATE [Suspect]
     Active Substance: TIOTROPIUM BROMIDE MONOHYDRATE
     Indication: Chronic obstructive pulmonary disease
     Dosage: 18.0 MICROGRAMS 1 EVERY 24 HOURS
     Route: 065
  618. TIOTROPIUM BROMIDE MONOHYDRATE [Suspect]
     Active Substance: TIOTROPIUM BROMIDE MONOHYDRATE
     Indication: Asthma
     Dosage: 18.0 MILLIGRAMS 1 EVERY 24 HOURS
     Route: 065
  619. TIOTROPIUM BROMIDE MONOHYDRATE [Suspect]
     Active Substance: TIOTROPIUM BROMIDE MONOHYDRATE
     Dosage: 1.0 DOSAGE FORM 1 EVERY 24 HOURS (DOSAGE FORM: CAPSULE)
     Route: 065
  620. TIOTROPIUM BROMIDE MONOHYDRATE [Suspect]
     Active Substance: TIOTROPIUM BROMIDE MONOHYDRATE
     Dosage: AT AN UNSPECIFIED DOSE AND FREQUENCY (DOSAGE FORM: NOT SPECIFIED)
     Route: 065
  621. TIOTROPIUM BROMIDE MONOHYDRATE [Suspect]
     Active Substance: TIOTROPIUM BROMIDE MONOHYDRATE
     Dosage: AT AN UNSPECIFIED DOSE 1 EVERY 24 HOURS
     Route: 065
  622. TIOTROPIUM BROMIDE MONOHYDRATE [Suspect]
     Active Substance: TIOTROPIUM BROMIDE MONOHYDRATE
     Dosage: 18.0 MILLIGRAMS 1 EVERY 1 DAY (DOSAGE FORM: NOT SPECIFIED)
     Route: 065
  623. TIOTROPIUM BROMIDE MONOHYDRATE [Suspect]
     Active Substance: TIOTROPIUM BROMIDE MONOHYDRATE
     Dosage: 18.0 MILLIGRAMS 1 EVERY 24 HOURS (DOSAGE FORM: INHALATION POWDER)
     Route: 065
  624. TIOTROPIUM BROMIDE MONOHYDRATE [Suspect]
     Active Substance: TIOTROPIUM BROMIDE MONOHYDRATE
     Dosage: AT AN UNSPECIFIED DOSE AND FREQUENCY (DOSAGE FORM: INHALATION POWDER)
     Route: 048
  625. TIOTROPIUM BROMIDE MONOHYDRATE [Suspect]
     Active Substance: TIOTROPIUM BROMIDE MONOHYDRATE
     Dosage: 18 MICROGRAMS 1 EVERY 1 DAY (DOSAGE FORM: INHALATION POWDER)
     Route: 065
  626. TIOTROPIUM BROMIDE MONOHYDRATE [Suspect]
     Active Substance: TIOTROPIUM BROMIDE MONOHYDRATE
     Dosage: 1.0 DOSAGE FORM 1 EVERY 1 DAY (DOSAGE FORM: INHALATION POWDER)
     Route: 065
  627. ACEBUTOLOL [Suspect]
     Active Substance: ACEBUTOLOL
     Indication: Hypertension
     Dosage: 200 MILLIGRAM 1 EVERY 12 HOURS
     Route: 065
  628. ACEBUTOLOL [Suspect]
     Active Substance: ACEBUTOLOL
     Indication: Coronary artery disease
     Dosage: 50 MILLIGRAM 1 EVERY 12 HOURS
     Route: 065
  629. ACEBUTOLOL [Suspect]
     Active Substance: ACEBUTOLOL
     Indication: Chest pain
     Dosage: 100 MILLIGRAM 1 EVERY 12 HOURS
     Route: 065
  630. ACEBUTOLOL [Suspect]
     Active Substance: ACEBUTOLOL
     Indication: Angina pectoris
  631. ATROPINE [Suspect]
     Active Substance: ATROPINE
     Indication: Coronary artery disease
     Dosage: 6.0 MILLIGRAMS 1 EVERY 24 HOURS
     Route: 061
  632. ATROPINE [Suspect]
     Active Substance: ATROPINE
     Indication: Chest pain
     Dosage: AT AN UNSPECIFIED DOSE AND FREQUENCY
     Route: 065
  633. ATROPINE [Suspect]
     Active Substance: ATROPINE
     Indication: Angina pectoris
  634. AMITRIPTYLINE HYDROCHLORIDE [Suspect]
     Active Substance: AMITRIPTYLINE HYDROCHLORIDE
     Indication: Insomnia
     Dosage: 50.0 MILLIGRAM, 1 EVERY 1 DAYS
     Route: 065
  635. DIAZEPAM [Suspect]
     Active Substance: DIAZEPAM
     Dosage: 75.0 MILLIGRAM, 1 EVERY 1 DAYS
     Route: 065
  636. AMITRIPTYLINE HYDROCHLORIDE [Suspect]
     Active Substance: AMITRIPTYLINE HYDROCHLORIDE
     Dosage: AT AN UNSPECIFIED DOSE AND FREQUENCY
     Route: 065
  637. FUROSEMIDE [Suspect]
     Active Substance: FUROSEMIDE
     Indication: Oedema
     Dosage: 40.0 MILLIGRAMS 1 EVERY 24 HOURS
     Route: 065
  638. DIAZEPAM [Suspect]
     Active Substance: DIAZEPAM
     Indication: Insomnia
     Dosage: AT AN UNSPECIFIED DOSE AND FREQUENCY (DOSAGE FORM: NOT SPECIFIED)
     Route: 065
  639. DIAZEPAM [Suspect]
     Active Substance: DIAZEPAM
     Indication: Coronary artery disease
  640. DIAZEPAM [Suspect]
     Active Substance: DIAZEPAM
     Indication: Angina pectoris
  641. GALANTAMINE [Suspect]
     Active Substance: GALANTAMINE
     Indication: Dementia
     Dosage: 16 MILLIGRAMS 1 EVERY 24 HOURS (DOSAGE FORM: CAPSULES)
     Route: 065
  642. GALANTAMINE [Suspect]
     Active Substance: GALANTAMINE
     Dosage: 16 MILLIGRAMS 1 EVERY 24 HOURS
     Route: 065
  643. GALANTAMINE [Suspect]
     Active Substance: GALANTAMINE
     Dosage: AT AN UNSPECIFIED DOSE AND FREQUENCY (DOSAGE FORM: NOT SPECIFIED)
     Route: 065
  644. GLYCERIN [Suspect]
     Active Substance: GLYCERIN
     Indication: Product used for unknown indication
     Dosage: AT AN UNSPECIFIED DOSE AND FREQUENCY (GLYCERINUM GLOB 1X-C1000)
     Route: 065
  645. HYDROCHLOROTHIAZIDE\QUINAPRIL HYDROCHLORIDE [Suspect]
     Active Substance: HYDROCHLOROTHIAZIDE\QUINAPRIL HYDROCHLORIDE
     Indication: Hypertension
     Dosage: 20 MILLIGRAM 1 EVERY 24 HOURS (DOSAGE FORM: TABLET)
     Route: 065
  646. HYDROCHLOROTHIAZIDE\QUINAPRIL HYDROCHLORIDE [Suspect]
     Active Substance: HYDROCHLOROTHIAZIDE\QUINAPRIL HYDROCHLORIDE
     Indication: Coronary artery disease
     Dosage: 40 MILLIGRAM 1 EVERY 24 HOURS (DOSAGE FORM: TABLET)
     Route: 065
  647. LEVOFLOXACIN HEMIHYDRATE [Suspect]
     Active Substance: LEVOFLOXACIN
     Indication: Urinary tract infection
     Dosage: 650 MILLIGRAMS 1 EVERY 24 HOURS
     Route: 065
  648. LEVOFLOXACIN HEMIHYDRATE [Suspect]
     Active Substance: LEVOFLOXACIN
     Dosage: 600 MILLIGRAMS 1 EVERY 24 HOURS
     Route: 065
  649. LEVOFLOXACIN HEMIHYDRATE [Suspect]
     Active Substance: LEVOFLOXACIN
     Dosage: 250 MILLIGRAMS 1 EVERY 24 HOURS
     Route: 065
  650. LEVOFLOXACIN HEMIHYDRATE [Suspect]
     Active Substance: LEVOFLOXACIN
     Dosage: 200 MILLIGRAMS 1 EVERY 24 HOURS
     Route: 065
  651. LEVOFLOXACIN HEMIHYDRATE [Suspect]
     Active Substance: LEVOFLOXACIN
     Dosage: AT AN UNSPECIFIED DOSE AND FREQUENCY (DOSAGE FORM: NOT SPECIFIED)
     Route: 065
  652. LEVOFLOXACIN HEMIHYDRATE [Suspect]
     Active Substance: LEVOFLOXACIN
     Dosage: 15.0 MILLIGRAM
     Route: 065
  653. QUINAPRIL [Suspect]
     Active Substance: QUINAPRIL
     Indication: Pain
     Dosage: 40 MILLIGRAMS 1 EVERY 24 HOURS (DOSAGE FORM: TABLET)
     Route: 065
  654. QUINAPRIL [Suspect]
     Active Substance: QUINAPRIL
     Indication: Hypertension
     Dosage: 20.0 MILLIGRAM 1 EVERY 1 DAYS (DOSAGE FORM: TABLET)
     Route: 065
  655. QUINAPRIL [Suspect]
     Active Substance: QUINAPRIL
     Indication: Coronary artery disease
     Dosage: 400.0 MILLIGRAM ,1 EVERY 1 DAYS
     Route: 065
  656. QUINAPRIL [Suspect]
     Active Substance: QUINAPRIL
     Dosage: 200.0 MILLIGRAM, 1 EVERY 6 HOURS
     Route: 065
  657. QUINAPRIL [Suspect]
     Active Substance: QUINAPRIL
     Dosage: AT AN UNSPECIFIED DOSE AND FREQUENCY
     Route: 065
  658. QUINAPRIL [Suspect]
     Active Substance: QUINAPRIL
     Dosage: 800.0 MILLIGRAM, 1 EVERY 1 DAYS
     Route: 065
  659. ROSUVASTATIN [Suspect]
     Active Substance: ROSUVASTATIN\ROSUVASTATIN CALCIUM
     Indication: Hypertension
     Dosage: 200 MILLIGRAM 1 EVERY 12 HOURS (DOSAGE FORM: TABLET)
     Route: 065
  660. ROSUVASTATIN [Suspect]
     Active Substance: ROSUVASTATIN\ROSUVASTATIN CALCIUM
     Indication: Cerebrovascular accident
     Dosage: AT AN UNSPECIFIED DOSE AND FREQUENCY
     Route: 058
  661. ROSUVASTATIN [Suspect]
     Active Substance: ROSUVASTATIN\ROSUVASTATIN CALCIUM
     Dosage: 20 MILLIGRAMS 1 EVERY 12 HOURS (DOSAGE FOR: NOT SPECIFIED)
     Route: 065
  662. ROSUVASTATIN [Suspect]
     Active Substance: ROSUVASTATIN\ROSUVASTATIN CALCIUM
     Dosage: 10MILLIGRAMS 1 EVERY 24HOURS (DOSAGE FORM: TABLET)
     Route: 048
  663. ROSUVASTATIN [Suspect]
     Active Substance: ROSUVASTATIN\ROSUVASTATIN CALCIUM
     Dosage: 20 MILLIGRAMS EVERY 12 HOURS ( DOSAGE FORM: TABLET)
     Route: 048
  664. ROSUVASTATIN [Suspect]
     Active Substance: ROSUVASTATIN\ROSUVASTATIN CALCIUM
     Dosage: 40MILLIGRAMS EVERY 24HOURS ( DOSAGE FORM: TABLET)
     Route: 048
  665. ROSUVASTATIN [Suspect]
     Active Substance: ROSUVASTATIN\ROSUVASTATIN CALCIUM
     Dosage: 20 MILLIGRAMS 1 EVERY 24 HOURS (DOSAGE FORM: TABLET)
     Route: 048
  666. AMLODIPINE\TELMISARTAN [Suspect]
     Active Substance: AMLODIPINE\TELMISARTAN
     Indication: Product used for unknown indication
     Dosage: AT AN UNSPECIFIED DOSE AND FREQUENCY
     Route: 065
  667. ZINC [Suspect]
     Active Substance: ZINC
     Indication: Product used for unknown indication
     Dosage: AT AN UNSPECIFIED DOSE AND FREQUENCY (DOSAGE FORM: NOT SPECIFIED)
     Route: 065
  668. ASCORBIC ACID\CRANBERRY [Suspect]
     Active Substance: ASCORBIC ACID\CRANBERRY
     Indication: Bladder disorder
     Dosage: 500 MILLIGRAMS AT AN UNSPECIFIED FREQUENCY (DOSAGE FORM: TABLET)
     Route: 065
  669. ASCORBIC ACID\CRANBERRY [Suspect]
     Active Substance: ASCORBIC ACID\CRANBERRY
     Dosage: AT AN UNSPECIFIED DOSE AND FREQUENCY (DOSAGE FORM: TABLET)
     Route: 065
  670. PICOLAX (ANHYDROUS CITRIC ACID\MAGNESIUM OXIDE\SODIUM PICOSULFATE) [Suspect]
     Active Substance: ANHYDROUS CITRIC ACID\MAGNESIUM OXIDE\SODIUM PICOSULFATE
     Indication: Constipation
     Dosage: 2 DOSAGE FORMS 1 EVERY 1 DAY (DOSAGE FORM: POWDER FOR SOLUTION ORAL)
     Route: 065
  671. ACETAMINOPHEN AND CODEINE [Suspect]
     Active Substance: ACETAMINOPHEN\CODEINE PHOSPHATE
     Indication: Pain
     Dosage: AT AN UNSPECIFIED DOSE AND FREQUENCY (DOSAGE FORM: TABLETS)
     Route: 065
  672. DOCUSATE SODIUM\SENNOSIDES A AND B [Suspect]
     Active Substance: DOCUSATE SODIUM\SENNOSIDES A AND B
     Indication: Constipation
     Dosage: AT AN UNSPECIFIED DOSE AND FREQUENCY
     Route: 065
  673. ACETAMINOSALOL\ASPIRIN\CAFFEINE [Suspect]
     Active Substance: ACETAMINOSALOL\ASPIRIN\CAFFEINE
     Indication: Product used for unknown indication
     Dosage: AT AN UNSPECIFIED DOSE AND FREQUENCY
     Route: 065
  674. CAFFEINE CITRATE [Suspect]
     Active Substance: CAFFEINE CITRATE
     Indication: Product used for unknown indication
     Dosage: AT AN UNSPECIFIED DOSE AND FREQUENCY (DOSAGE FORM: NOT SPECIFIED)
     Route: 065
  675. AMINOPHYLLINE [Suspect]
     Active Substance: AMINOPHYLLINE
     Indication: Coronary artery disease
     Dosage: AT AN UNSPECIFIED DOSE AND FREQUENCY
     Route: 065
  676. METHYLATROPINE NITRATE [Suspect]
     Active Substance: METHYLATROPINE NITRATE
     Indication: Angina pectoris
     Dosage: AT AN UNSPECIFIED DOSE AND FREQUENCY
     Route: 061
  677. MAGNESIUM ALUMINUM SILICATE [Suspect]
     Active Substance: MAGNESIUM ALUMINUM SILICATE
     Indication: Constipation
     Dosage: 620.0 MILLIGRAM 1 EVERY 12 HOURS
     Route: 065
  678. VITAMIN C [Suspect]
     Active Substance: ASCORBIC ACID
     Indication: Product used for unknown indication
     Dosage: UNK
     Route: 065
  679. SODIUM BENZOATE [Concomitant]
     Active Substance: SODIUM BENZOATE
     Indication: Product used for unknown indication
     Route: 065
  680. ZINC SALICYLATE [Concomitant]
     Active Substance: ZINC SALICYLATE
     Indication: Product used for unknown indication
     Dosage: AT UNSPECIFIED DOSE AND FREQUENCY (DOSAGE FORM: NOT SPECIFIED)
     Route: 065
  681. CRANBERRY [Concomitant]
     Active Substance: CRANBERRY
     Indication: Bladder disorder
     Dosage: 500 MILLIGRAM AT UNSPECIFIED FREQUENCY
     Route: 065
  682. ASPIRIN [Concomitant]
     Active Substance: ASPIRIN
     Indication: Coronary artery disease
     Dosage: (DOSAGE FORM : NOT SPECIFIED) AT AN UNSPECIFIED DOSE AND FREQUENCY
     Route: 065
  683. PHOSPHORIC ACID [Concomitant]
     Active Substance: PHOSPHORIC ACID
     Indication: Product used for unknown indication
     Route: 065
  684. HERBALS\PLANTAGO INDICA WHOLE [Concomitant]
     Active Substance: HERBALS\PLANTAGO INDICA WHOLE
     Route: 065
  685. CALCIUM POLYCARBOPHIL [Concomitant]
     Active Substance: CALCIUM POLYCARBOPHIL
     Indication: Bladder disorder
     Dosage: 500 MILLIGRAM AT UNSPECIFIED FREQUENCY
     Route: 065
  686. VITAMIN C [Concomitant]
     Active Substance: ASCORBIC ACID
     Indication: Bladder ablation
     Dosage: (DOSAGE FORM: NOT SPECIFIED) AT AN UNSPECIFIED DOSE AND FREQUENCY
     Route: 065
  687. VITAMIN C [Concomitant]
     Active Substance: ASCORBIC ACID
     Dosage: 500 MILLIGRAM 1 EVERY 1 DAYS
     Route: 065
  688. VITAMIN C [Concomitant]
     Active Substance: ASCORBIC ACID
     Dosage: 500 MILLIGRAMS AT AN UNSPECIFIED FREQUENCY
     Route: 065
  689. VITAMIN C [Concomitant]
     Active Substance: ASCORBIC ACID
     Dosage: AT AN UNSPECIFIED DOSE 1 EVERY 1 DAY
     Route: 065
  690. ZINC [Concomitant]
     Active Substance: ZINC
     Indication: Product used for unknown indication
     Dosage: (DOSAGE FORM: NOT SPECIFIED)
     Route: 065
  691. GLYCERIN\POTASSIUM [Concomitant]
     Active Substance: GLYCERIN\POTASSIUM
     Indication: Product used for unknown indication
     Route: 065
  692. POTASSIUM [Concomitant]
     Active Substance: POTASSIUM
     Indication: Product used for unknown indication
     Dosage: AT UNSPECIFIED FREQUENCY (DOSAGE FORM: NOT SPECIFIED)
     Route: 065
  693. GLUCOSAMINE [Concomitant]
     Active Substance: GLUCOSAMINE
     Indication: Product used for unknown indication
     Dosage: AT AN UNSPECIFIED DOSE AND FREQUENCY
     Route: 065
  694. GLYCERIN\POTASSIUM [Concomitant]
     Active Substance: GLYCERIN\POTASSIUM
     Indication: Constipation
     Route: 065
  695. CALCIUM ASCORBATE [Concomitant]
     Active Substance: CALCIUM ASCORBATE
     Indication: Product used for unknown indication
     Dosage: (DOSAGE FORM: NOT SPECIFIED) AT AN UNSPECIFIED DOSE AND FREQUENCY
     Route: 065
  696. DIPYRIDAMOLE [Concomitant]
     Active Substance: DIPYRIDAMOLE
     Indication: Product used for unknown indication
     Dosage: (DOSAGE FORM: NOT SPECIFIED)
     Route: 065
  697. ASPIRIN\DIPYRIDAMOLE [Concomitant]
     Active Substance: ASPIRIN\DIPYRIDAMOLE
     Indication: Cerebrovascular accident
     Dosage: 2 DOSAGE FORMS AT UNSPECIFIED FREQUENCY
     Route: 065
  698. ASPIRIN\DIPYRIDAMOLE [Concomitant]
     Active Substance: ASPIRIN\DIPYRIDAMOLE
     Dosage: 2 DOSAGE FORS 1 EVERY 1 DAYS
     Route: 065
  699. ASCORBIC ACID\CRANBERRY [Concomitant]
     Active Substance: ASCORBIC ACID\CRANBERRY
     Indication: Bladder ablation
     Dosage: 500 MILLIGRAM 1 EVERY 1 DAY (DOSAGE FORM: TABLET)
     Route: 065
  700. ASCORBIC ACID\CRANBERRY [Concomitant]
     Active Substance: ASCORBIC ACID\CRANBERRY
     Dosage: AT AN UNSPECIFIED DOSE AND FREQUENCY (DOSAGE FORM: TABLET)
     Route: 065
  701. NITROGLYCERIN [Suspect]
     Active Substance: NITROGLYCERIN
  702. PAPAVERINE HYDROCHLORIDE [Suspect]
     Active Substance: PAPAVERINE HYDROCHLORIDE
  703. PHENOBARBITAL [Suspect]
     Active Substance: PHENOBARBITAL
  704. DIAZEPAM [Suspect]
     Active Substance: DIAZEPAM

REACTIONS (24)
  - Cognitive disorder [Recovered/Resolved]
  - Drug interaction [Recovered/Resolved]
  - Fall [Recovered/Resolved]
  - Multiple drug therapy [Recovered/Resolved]
  - Sedation complication [Recovered/Resolved]
  - Balance disorder [Recovered/Resolved]
  - Blood calcium decreased [Recovered/Resolved]
  - Creatinine renal clearance decreased [Recovered/Resolved]
  - Depressed level of consciousness [Recovered/Resolved]
  - Drug abuse [Recovered/Resolved]
  - Mobility decreased [Recovered/Resolved]
  - Overdose [Recovered/Resolved]
  - Pain [Recovered/Resolved]
  - Toxicity to various agents [Recovered/Resolved]
  - Sedation [Recovered/Resolved]
  - Creatinine renal clearance increased [Recovered/Resolved]
  - Off label use [Recovered/Resolved]
  - Product use in unapproved indication [Recovered/Resolved]
  - Renal function test abnormal [Recovered/Resolved]
  - Orthostatic hypotension [Recovered/Resolved]
  - Orthostatic hypotension [Recovered/Resolved]
  - Constipation [Recovered/Resolved]
  - Dyspnoea [Recovered/Resolved]
  - Hypotension [Recovered/Resolved]
